FAERS Safety Report 20233220 (Version 10)
Quarter: 2023Q2

REPORT INFORMATION
  Report Type: Spontaneous
  Country: CA (occurrence: CA)
  Receive Date: 20211227
  Receipt Date: 20230616
  Transmission Date: 20230721
  Serious: Yes (Death, Hospitalization, Disabling, Other)
  Sender: FDA-Public Use
  Company Number: CA-NOVARTISPH-NVSC2021CA295889

PATIENT
  Age: 80 Year
  Sex: Male
  Weight: 69 kg

DRUGS (657)
  1. ALBUTEROL [Suspect]
     Active Substance: ALBUTEROL
     Indication: Chronic obstructive pulmonary disease
     Dosage: 4 DOSAGE FORM, QD (1 DOSAGE FORM QID)
  2. ALBUTEROL [Suspect]
     Active Substance: ALBUTEROL
     Dosage: 1 DOSAGE FORM, Q6H
  3. ALBUTEROL [Suspect]
     Active Substance: ALBUTEROL
     Dosage: 1 DOSAGE FORM, QID
  4. ALBUTEROL [Suspect]
     Active Substance: ALBUTEROL
     Dosage: 1 DOSAGE FORM
     Route: 065
  5. ALBUTEROL [Suspect]
     Active Substance: ALBUTEROL
     Dosage: UNK, QD
  6. ALBUTEROL [Suspect]
     Active Substance: ALBUTEROL
     Dosage: 1 DOSAGE FORM, QID
     Route: 050
  7. ALBUTEROL [Suspect]
     Active Substance: ALBUTEROL
     Dosage: UNK, QID
     Route: 050
  8. ALBUTEROL [Suspect]
     Active Substance: ALBUTEROL
     Dosage: UNK, QID
  9. ALBUTEROL [Suspect]
     Active Substance: ALBUTEROL
     Dosage: 1 DOSAGE FORM
     Route: 065
  10. ALBUTEROL [Suspect]
     Active Substance: ALBUTEROL
     Dosage: UNK, QID
     Route: 065
  11. ALBUTEROL [Suspect]
     Active Substance: ALBUTEROL
     Dosage: UNK
     Route: 065
  12. ALBUTEROL [Suspect]
     Active Substance: ALBUTEROL
     Dosage: 1 DOSAGE FORM
  13. ALBUTEROL [Suspect]
     Active Substance: ALBUTEROL
     Dosage: 4 DOSAGE FORM
  14. ALBUTEROL [Suspect]
     Active Substance: ALBUTEROL
     Dosage: 4 DOSAGE FORM, QD
  15. ALBUTEROL [Suspect]
     Active Substance: ALBUTEROL
     Dosage: UNK
     Route: 065
  16. ALBUTEROL [Suspect]
     Active Substance: ALBUTEROL
     Dosage: UNK
  17. ALBUTEROL [Suspect]
     Active Substance: ALBUTEROL
     Dosage: 4 DOSAGE FORM, QD
     Route: 065
  18. ALBUTEROL [Suspect]
     Active Substance: ALBUTEROL
     Dosage: UNK
     Route: 065
  19. ALBUTEROL [Suspect]
     Active Substance: ALBUTEROL
     Dosage: 4 DOSAGE FORM, QD
     Route: 065
  20. ALBUTEROL [Suspect]
     Active Substance: ALBUTEROL
     Dosage: UNK
  21. ALBUTEROL [Suspect]
     Active Substance: ALBUTEROL
     Dosage: 4 DOSAGE FORM
  22. ALBUTEROL [Suspect]
     Active Substance: ALBUTEROL
     Dosage: UNK, QID
     Route: 065
  23. ALBUTEROL [Suspect]
     Active Substance: ALBUTEROL
     Dosage: 1 DOSAGE FORM
     Route: 050
  24. ALBUTEROL [Suspect]
     Active Substance: ALBUTEROL
     Dosage: UNK
  25. ALBUTEROL [Suspect]
     Active Substance: ALBUTEROL
     Dosage: 1 DOSAGE FORM
  26. ALBUTEROL [Suspect]
     Active Substance: ALBUTEROL
     Dosage: 4 DOSAGE FORM
     Route: 065
  27. ALBUTEROL [Suspect]
     Active Substance: ALBUTEROL
     Dosage: 1 DOSAGE FORM, QID
     Route: 065
  28. ALBUTEROL [Suspect]
     Active Substance: ALBUTEROL
     Dosage: UNK
     Route: 065
  29. ALBUTEROL [Suspect]
     Active Substance: ALBUTEROL
     Dosage: 1 DOSAGE FORM
  30. ALBUTEROL [Suspect]
     Active Substance: ALBUTEROL
     Dosage: 1 DOSAGE FORM, QID
     Route: 065
  31. ALBUTEROL [Suspect]
     Active Substance: ALBUTEROL
     Dosage: 1 DOSAGE FORM
  32. ALBUTEROL [Suspect]
     Active Substance: ALBUTEROL
     Dosage: UNK, QD
     Route: 065
  33. ALBUTEROL [Suspect]
     Active Substance: ALBUTEROL
     Dosage: UNK, QD
  34. ALBUTEROL [Suspect]
     Active Substance: ALBUTEROL
     Dosage: 4 DOSAGE FORM
  35. ALBUTEROL [Suspect]
     Active Substance: ALBUTEROL
     Dosage: UNK, QD
     Route: 050
  36. ALBUTEROL [Suspect]
     Active Substance: ALBUTEROL
     Dosage: 4 DOSAGE FORM
     Route: 065
  37. ALBUTEROL [Suspect]
     Active Substance: ALBUTEROL
     Dosage: UNK
  38. ALBUTEROL [Suspect]
     Active Substance: ALBUTEROL
     Dosage: 1 DOSAGE FORM, QID
  39. ALBUTEROL [Suspect]
     Active Substance: ALBUTEROL
     Dosage: UNK
     Route: 050
  40. AMIODARONE [Suspect]
     Active Substance: AMIODARONE
     Indication: Ventricular fibrillation
     Dosage: 27.78 ML
     Route: 042
  41. AMIODARONE [Suspect]
     Active Substance: AMIODARONE
     Indication: Drug therapy
     Dosage: 150 MG, QD
     Route: 042
  42. AMIODARONE [Suspect]
     Active Substance: AMIODARONE
     Dosage: UNK UNK, QD
     Route: 042
  43. AMIODARONE [Suspect]
     Active Substance: AMIODARONE
     Dosage: 150 MG
     Route: 042
  44. AMIODARONE [Suspect]
     Active Substance: AMIODARONE
     Dosage: UNK
     Route: 042
  45. AMIODARONE HYDROCHLORIDE [Suspect]
     Active Substance: AMIODARONE HYDROCHLORIDE
     Indication: Ventricular fibrillation
     Dosage: 150 MG, QD (INTRAVENOUS (NOT OTHERWISE SPECFIIED)
     Route: 042
     Dates: start: 20200602, end: 20200602
  46. AMIODARONE HYDROCHLORIDE [Suspect]
     Active Substance: AMIODARONE HYDROCHLORIDE
     Indication: Drug therapy
     Dosage: UNK
     Route: 065
     Dates: start: 20200603
  47. AMIODARONE HYDROCHLORIDE [Suspect]
     Active Substance: AMIODARONE HYDROCHLORIDE
     Dosage: UNK, QD (INJECTION)
     Route: 042
  48. AMIODARONE HYDROCHLORIDE [Suspect]
     Active Substance: AMIODARONE HYDROCHLORIDE
     Dosage: UNK, QD
     Route: 065
  49. AMIODARONE HYDROCHLORIDE [Suspect]
     Active Substance: AMIODARONE HYDROCHLORIDE
     Dosage: 1 DOSAGE FORM, QD (INTRAVENOUS (NOT OTHERWISE SPECIFIIED)
     Route: 042
  50. AMIODARONE HYDROCHLORIDE [Suspect]
     Active Substance: AMIODARONE HYDROCHLORIDE
     Dosage: UNK
     Route: 065
  51. VITAMIN K1 [Suspect]
     Active Substance: PHYTONADIONE
     Indication: Vitamin supplementation
     Dosage: 5 MG
     Route: 042
     Dates: start: 20200602, end: 20200602
  52. VITAMIN K1 [Suspect]
     Active Substance: PHYTONADIONE
     Dosage: 5 MG, QD
     Route: 017
  53. VITAMIN K1 [Suspect]
     Active Substance: PHYTONADIONE
     Dosage: UNK
     Route: 065
  54. VITAMIN K1 [Suspect]
     Active Substance: PHYTONADIONE
     Dosage: 5 MG
     Route: 042
  55. ASCORBIC ACID [Suspect]
     Active Substance: ASCORBIC ACID
     Indication: Constipation
     Dosage: 17 G, QD
     Route: 048
  56. ONDANSETRON [Suspect]
     Active Substance: ONDANSETRON
     Indication: Vomiting
     Dosage: 12 MG, Q8H
     Route: 042
     Dates: start: 20200601
  57. ONDANSETRON [Suspect]
     Active Substance: ONDANSETRON
     Indication: Nausea
     Dosage: 4 MG, Q8H
     Route: 042
  58. ONDANSETRON [Suspect]
     Active Substance: ONDANSETRON
     Dosage: 40 MG, Q8H
     Route: 042
  59. ONDANSETRON [Suspect]
     Active Substance: ONDANSETRON
     Dosage: 1 DOSAGE FORM, Q8H
     Route: 042
  60. ONDANSETRON [Suspect]
     Active Substance: ONDANSETRON
     Dosage: 41.14 MG, Q8H
     Route: 042
  61. ONDANSETRON [Suspect]
     Active Substance: ONDANSETRON
     Dosage: 8 MG, Q8H
     Route: 042
  62. ONDANSETRON [Suspect]
     Active Substance: ONDANSETRON
     Dosage: 24 MG, Q8H
     Route: 042
  63. ONDANSETRON [Suspect]
     Active Substance: ONDANSETRON
     Dosage: 36 MG, Q8H
     Route: 042
  64. ONDANSETRON [Suspect]
     Active Substance: ONDANSETRON
     Dosage: 1 DOSAGE FORM, QD
     Route: 042
  65. ONDANSETRON [Suspect]
     Active Substance: ONDANSETRON
     Dosage: 41.4 MG, Q8H
     Route: 042
  66. ONDANSETRON [Suspect]
     Active Substance: ONDANSETRON
     Dosage: 1 DOSAGE FORM
     Route: 042
  67. ONDANSETRON [Suspect]
     Active Substance: ONDANSETRON
     Dosage: 1 DOSAGE FORM
     Route: 042
  68. ONDANSETRON [Suspect]
     Active Substance: ONDANSETRON
     Dosage: 8 MG
     Route: 042
  69. ONDANSETRON [Suspect]
     Active Substance: ONDANSETRON
     Dosage: 1 DOSAGE FORM
     Route: 042
  70. ONDANSETRON [Suspect]
     Active Substance: ONDANSETRON
     Dosage: 12 MG
     Route: 065
  71. ONDANSETRON [Suspect]
     Active Substance: ONDANSETRON
     Dosage: 12 DOSAGE FORM
     Route: 042
  72. ONDANSETRON [Suspect]
     Active Substance: ONDANSETRON
     Dosage: 40 MG
     Route: 065
  73. ONDANSETRON [Suspect]
     Active Substance: ONDANSETRON
     Dosage: 14 DOSAGE FORM
     Route: 042
  74. ONDANSETRON [Suspect]
     Active Substance: ONDANSETRON
     Dosage: 1 DOSAGE FORM, QD
     Route: 042
  75. ONDANSETRON [Suspect]
     Active Substance: ONDANSETRON
     Dosage: 41.4 MG
     Route: 042
  76. ONDANSETRON [Suspect]
     Active Substance: ONDANSETRON
     Dosage: 12 MG
     Route: 042
  77. ONDANSETRON [Suspect]
     Active Substance: ONDANSETRON
     Dosage: 36 MG, TID
     Route: 012
  78. ONDANSETRON [Suspect]
     Active Substance: ONDANSETRON
     Dosage: UNK, TID
     Route: 042
  79. ONDANSETRON [Suspect]
     Active Substance: ONDANSETRON
     Dosage: 24 MG
     Route: 042
  80. ONDANSETRON [Suspect]
     Active Substance: ONDANSETRON
     Dosage: 41.4 MG
     Route: 042
  81. ONDANSETRON [Suspect]
     Active Substance: ONDANSETRON
     Dosage: 4 MG, QD
     Route: 042
  82. ONDANSETRON [Suspect]
     Active Substance: ONDANSETRON
     Dosage: 12 MG, QD
     Route: 042
  83. ONDANSETRON [Suspect]
     Active Substance: ONDANSETRON
     Dosage: 40 MG
     Route: 042
  84. ONDANSETRON [Suspect]
     Active Substance: ONDANSETRON
     Dosage: 4 MG
     Route: 042
  85. ONDANSETRON [Suspect]
     Active Substance: ONDANSETRON
     Dosage: 41.4 MG
     Route: 042
  86. ONDANSETRON [Suspect]
     Active Substance: ONDANSETRON
     Dosage: 1 DOSAGE FORM
     Route: 065
  87. ONDANSETRON [Suspect]
     Active Substance: ONDANSETRON
     Dosage: 14.14 MG
     Route: 042
  88. ONDANSETRON [Suspect]
     Active Substance: ONDANSETRON
     Dosage: 41.14 UNK
     Route: 042
  89. ONDANSETRON [Suspect]
     Active Substance: ONDANSETRON
     Dosage: 1 DOSAGE FORM, QD
     Route: 048
  90. ONDANSETRON [Suspect]
     Active Substance: ONDANSETRON
     Dosage: 60 MG, QD
     Route: 048
  91. NOREPINEPHRINE [Suspect]
     Active Substance: NOREPINEPHRINE
     Indication: Stress
     Dosage: 3 MG, QD
     Route: 042
     Dates: start: 20200601
  92. NOREPINEPHRINE [Suspect]
     Active Substance: NOREPINEPHRINE
     Dosage: 1 DOSAGE FORM, QD
     Route: 042
  93. NOREPINEPHRINE [Suspect]
     Active Substance: NOREPINEPHRINE
     Dosage: 1 DOSAGE FORM, QD
     Route: 048
  94. NOREPINEPHRINE [Suspect]
     Active Substance: NOREPINEPHRINE
     Dosage: 3 MG, QD
     Route: 048
  95. NOREPINEPHRINE [Suspect]
     Active Substance: NOREPINEPHRINE
     Dosage: UNK
     Route: 065
  96. NOREPINEPHRINE [Suspect]
     Active Substance: NOREPINEPHRINE
     Dosage: UNK
     Route: 042
  97. SIMVASTATIN [Suspect]
     Active Substance: SIMVASTATIN
     Indication: Blood cholesterol increased
     Dosage: 40 MG, QD
     Route: 048
     Dates: start: 20200527
  98. SIMVASTATIN [Suspect]
     Active Substance: SIMVASTATIN
     Indication: Vitamin supplementation
     Dosage: UNK, QD
     Route: 048
  99. SIMVASTATIN [Suspect]
     Active Substance: SIMVASTATIN
     Dosage: UNK
     Route: 065
  100. SIMVASTATIN [Suspect]
     Active Substance: SIMVASTATIN
     Dosage: UNK
     Route: 065
  101. SODIUM FERRIC GLUCONATE COMPLEX [Suspect]
     Active Substance: SODIUM FERRIC GLUCONATE COMPLEX
     Indication: Iron deficiency
     Dosage: 4.64 MG, 4W
     Route: 042
  102. SODIUM FERRIC GLUCONATE COMPLEX [Suspect]
     Active Substance: SODIUM FERRIC GLUCONATE COMPLEX
     Dosage: 125.0 MG, 4W
     Route: 042
  103. SODIUM FERRIC GLUCONATE COMPLEX [Suspect]
     Active Substance: SODIUM FERRIC GLUCONATE COMPLEX
     Dosage: 1.25 MG, QMO
     Route: 042
  104. LANSOPRAZOLE [Suspect]
     Active Substance: LANSOPRAZOLE
     Indication: Antacid therapy
     Dosage: 30 MG, QD (DELAYED RELEASE)
     Route: 048
  105. LANSOPRAZOLE [Suspect]
     Active Substance: LANSOPRAZOLE
     Dosage: UNK, QD (PROLONGED-RELEASE)
     Route: 048
  106. LANSOPRAZOLE [Suspect]
     Active Substance: LANSOPRAZOLE
     Dosage: UNK (PROLONGED-RELEASE)
     Route: 065
  107. VASOPRESSIN [Suspect]
     Active Substance: VASOPRESSIN
     Indication: Drug therapy
     Dosage: 50 ML, QD
     Route: 042
  108. VASOPRESSIN [Suspect]
     Active Substance: VASOPRESSIN
     Indication: Thrombosis
     Dosage: 250 ML, QD
     Route: 042
  109. VASOPRESSIN [Suspect]
     Active Substance: VASOPRESSIN
     Dosage: UNK
     Route: 017
  110. VASOPRESSIN [Suspect]
     Active Substance: VASOPRESSIN
     Dosage: UNK
     Route: 065
  111. VASOPRESSIN [Suspect]
     Active Substance: VASOPRESSIN
     Dosage: 1 IU, QD
     Route: 065
  112. VASOPRESSIN [Suspect]
     Active Substance: VASOPRESSIN
     Dosage: UNK
     Route: 042
  113. HEPARIN SODIUM [Suspect]
     Active Substance: HEPARIN SODIUM
     Indication: Anticoagulant therapy
     Dosage: 250 ML (AS REQUIRED, SOLUTION INTRAVENOUS)
     Route: 042
  114. HEPARIN SODIUM [Suspect]
     Active Substance: HEPARIN SODIUM
     Indication: Nutritional supplementation
     Dosage: 50 ML (AS REQUIRED, SOLUTION INTRAVENOUS)
     Route: 042
  115. HEPARIN SODIUM [Suspect]
     Active Substance: HEPARIN SODIUM
     Dosage: 250 ML, QD
     Route: 042
  116. HEPARIN SODIUM [Suspect]
     Active Substance: HEPARIN SODIUM
     Dosage: 250 ML
     Route: 017
  117. HEPARIN SODIUM [Suspect]
     Active Substance: HEPARIN SODIUM
     Dosage: 50 ML, QD
     Route: 017
  118. HEPARIN SODIUM [Suspect]
     Active Substance: HEPARIN SODIUM
     Dosage: 250 ML
     Route: 017
  119. HEPARIN SODIUM [Suspect]
     Active Substance: HEPARIN SODIUM
     Dosage: UNK
     Route: 065
  120. HEPARIN SODIUM [Suspect]
     Active Substance: HEPARIN SODIUM
     Dosage: 50 ML
     Route: 042
  121. HEPARIN SODIUM [Suspect]
     Active Substance: HEPARIN SODIUM
     Dosage: 50 ML
     Route: 017
  122. HEPARIN SODIUM [Suspect]
     Active Substance: HEPARIN SODIUM
     Dosage: 12.5 MG
     Route: 042
  123. HEPARIN SODIUM [Suspect]
     Active Substance: HEPARIN SODIUM
     Dosage: 12.5 MG, QD
     Route: 042
  124. HEPARIN SODIUM [Suspect]
     Active Substance: HEPARIN SODIUM
     Dosage: 12.5 MG, QD
     Route: 042
  125. HEPARIN SODIUM [Suspect]
     Active Substance: HEPARIN SODIUM
     Dosage: 12.5 MG
     Route: 042
  126. FLUTICASONE [Suspect]
     Active Substance: FLUTICASONE
     Indication: Product used for unknown indication
     Dosage: UNK
     Route: 065
  127. FLUTICASONE [Suspect]
     Active Substance: FLUTICASONE
     Dosage: UNK
     Route: 065
  128. CEFTRIAXONE SODIUM [Suspect]
     Active Substance: CEFTRIAXONE SODIUM
     Indication: Bacterial infection
     Dosage: 2 G, QD (POWDER FOR SOLUTION INTRAMUSCULAR)
     Route: 042
     Dates: start: 20200530
  129. CEFTRIAXONE SODIUM [Suspect]
     Active Substance: CEFTRIAXONE SODIUM
     Dosage: UNK
     Route: 065
  130. CEFTRIAXONE SODIUM [Suspect]
     Active Substance: CEFTRIAXONE SODIUM
     Dosage: 2 G
     Route: 065
  131. CEFTRIAXONE SODIUM [Suspect]
     Active Substance: CEFTRIAXONE SODIUM
     Dosage: UNK, QD
     Route: 042
  132. HYDROMORPHONE HYDROCHLORIDE [Suspect]
     Active Substance: HYDROMORPHONE HYDROCHLORIDE
     Indication: Analgesic therapy
     Dosage: 24 MG
     Route: 058
  133. HYDROMORPHONE HYDROCHLORIDE [Suspect]
     Active Substance: HYDROMORPHONE HYDROCHLORIDE
     Dosage: 6 MG
     Route: 058
  134. HYDROMORPHONE HYDROCHLORIDE [Suspect]
     Active Substance: HYDROMORPHONE HYDROCHLORIDE
     Dosage: 4 MG
     Route: 058
  135. HYDROMORPHONE HYDROCHLORIDE [Suspect]
     Active Substance: HYDROMORPHONE HYDROCHLORIDE
     Dosage: 1 MG
     Route: 058
  136. HYDROMORPHONE HYDROCHLORIDE [Suspect]
     Active Substance: HYDROMORPHONE HYDROCHLORIDE
     Dosage: 1 MG, QD
     Route: 058
  137. HYDROMORPHONE HYDROCHLORIDE [Suspect]
     Active Substance: HYDROMORPHONE HYDROCHLORIDE
     Dosage: 6 MG
     Route: 058
  138. HYDROMORPHONE HYDROCHLORIDE [Suspect]
     Active Substance: HYDROMORPHONE HYDROCHLORIDE
     Dosage: 24 MG
     Route: 058
  139. HYDROMORPHONE HYDROCHLORIDE [Suspect]
     Active Substance: HYDROMORPHONE HYDROCHLORIDE
     Dosage: 17 MG, QD
     Route: 065
  140. HYDROMORPHONE HYDROCHLORIDE [Suspect]
     Active Substance: HYDROMORPHONE HYDROCHLORIDE
     Dosage: 1 MG
     Route: 058
  141. HYDROMORPHONE HYDROCHLORIDE [Suspect]
     Active Substance: HYDROMORPHONE HYDROCHLORIDE
     Dosage: 4 MG
     Route: 058
  142. HYDROMORPHONE HYDROCHLORIDE [Suspect]
     Active Substance: HYDROMORPHONE HYDROCHLORIDE
     Dosage: 6 MG
     Route: 065
  143. HYDROMORPHONE HYDROCHLORIDE [Suspect]
     Active Substance: HYDROMORPHONE HYDROCHLORIDE
     Dosage: 6 MG
     Route: 058
  144. HYDROMORPHONE HYDROCHLORIDE [Suspect]
     Active Substance: HYDROMORPHONE HYDROCHLORIDE
     Dosage: 1 MG
     Route: 058
  145. HYDROMORPHONE HYDROCHLORIDE [Suspect]
     Active Substance: HYDROMORPHONE HYDROCHLORIDE
     Dosage: 96 MG, QD
     Route: 058
  146. DOBUTAMINE [Suspect]
     Active Substance: DOBUTAMINE HYDROCHLORIDE
     Indication: Cardiogenic shock
     Dosage: UNK
     Route: 042
     Dates: start: 20200601
  147. DOBUTAMINE [Suspect]
     Active Substance: DOBUTAMINE HYDROCHLORIDE
     Dosage: UNK
     Route: 042
  148. DOBUTAMINE [Suspect]
     Active Substance: DOBUTAMINE HYDROCHLORIDE
     Dosage: UNK
     Route: 065
  149. SODIUM BICARBONATE [Suspect]
     Active Substance: SODIUM BICARBONATE
     Indication: Constipation
     Dosage: 17 G, QD
     Route: 048
  150. POTASSIUM CHLORIDE [Suspect]
     Active Substance: POTASSIUM CHLORIDE
     Indication: Constipation
     Dosage: 17 G, QD
     Route: 048
  151. DOBUTAMINE HYDROCHLORIDE [Suspect]
     Active Substance: DOBUTAMINE HYDROCHLORIDE
     Indication: Cardiogenic shock
     Dosage: UNK (LIQUID INTRAVENOUS)
     Route: 042
     Dates: start: 20200601
  152. DOBUTAMINE HYDROCHLORIDE [Suspect]
     Active Substance: DOBUTAMINE HYDROCHLORIDE
     Dosage: UNK
     Route: 065
     Dates: start: 20200602
  153. ALLOPURINOL [Suspect]
     Active Substance: ALLOPURINOL
     Indication: Blood uric acid increased
     Dosage: 100 MG, QD
     Route: 048
  154. ALLOPURINOL [Suspect]
     Active Substance: ALLOPURINOL
     Dosage: 1 DOSAGE FORM
     Route: 048
  155. BETAMETHASONE [Suspect]
     Active Substance: BETAMETHASONE
     Indication: Swelling
     Dosage: 10 MG, PRN
     Route: 061
     Dates: start: 20200527
  156. BETAMETHASONE [Suspect]
     Active Substance: BETAMETHASONE
     Dosage: 1 DOSAGE FORM
     Route: 061
  157. BETAMETHASONE [Suspect]
     Active Substance: BETAMETHASONE
     Dosage: UNK
     Route: 065
  158. BETAMETHASONE [Suspect]
     Active Substance: BETAMETHASONE
     Dosage: 10 MG
     Route: 061
  159. BETAMETHASONE [Suspect]
     Active Substance: BETAMETHASONE
     Dosage: UNK
     Route: 061
  160. BETAMETHASONE [Suspect]
     Active Substance: BETAMETHASONE
     Dosage: UNK
     Route: 065
  161. BETAMETHASONE [Suspect]
     Active Substance: BETAMETHASONE
     Dosage: UNK
     Route: 065
  162. ACETAMINOPHEN [Suspect]
     Active Substance: ACETAMINOPHEN
     Indication: Analgesic therapy
     Dosage: 650 MG, QD
     Route: 048
     Dates: start: 20200527
  163. ACETAMINOPHEN [Suspect]
     Active Substance: ACETAMINOPHEN
     Dosage: UNK
     Route: 065
  164. ACETAMINOPHEN [Suspect]
     Active Substance: ACETAMINOPHEN
     Dosage: 650 G, QD
     Route: 048
  165. ACETAMINOPHEN [Suspect]
     Active Substance: ACETAMINOPHEN
     Dosage: 650 MG, QD
     Route: 048
  166. DIETARY SUPPLEMENT [Suspect]
     Active Substance: DIETARY SUPPLEMENT
     Indication: Vitamin supplementation
     Dosage: 5 MG (POWDER)
     Route: 042
  167. HYDROMORPHONE HYDROCHLORIDE [Suspect]
     Active Substance: HYDROMORPHONE HYDROCHLORIDE
     Indication: Analgesic therapy
     Dosage: 1 MG, QD
     Route: 058
  168. HYDROMORPHONE HYDROCHLORIDE [Suspect]
     Active Substance: HYDROMORPHONE HYDROCHLORIDE
     Dosage: 6 MG, QID (Q4H)
     Route: 058
  169. HYDROMORPHONE HYDROCHLORIDE [Suspect]
     Active Substance: HYDROMORPHONE HYDROCHLORIDE
     Dosage: 24 MG, QD (Q4H)
     Route: 058
  170. HYDROMORPHONE HYDROCHLORIDE [Suspect]
     Active Substance: HYDROMORPHONE HYDROCHLORIDE
     Dosage: 4 MG, Q4H
     Route: 058
  171. HYDROMORPHONE HYDROCHLORIDE [Suspect]
     Active Substance: HYDROMORPHONE HYDROCHLORIDE
     Dosage: 6 MG, Q6H
     Route: 058
  172. HYDROMORPHONE HYDROCHLORIDE [Suspect]
     Active Substance: HYDROMORPHONE HYDROCHLORIDE
     Dosage: 17 MG, QD
     Route: 058
  173. HYDROMORPHONE HYDROCHLORIDE [Suspect]
     Active Substance: HYDROMORPHONE HYDROCHLORIDE
     Dosage: 1 MG (EVERY 6 DAYS)
     Route: 057
  174. HYDROMORPHONE HYDROCHLORIDE [Suspect]
     Active Substance: HYDROMORPHONE HYDROCHLORIDE
     Dosage: 96 MG, QD
     Route: 058
  175. HYDROMORPHONE HYDROCHLORIDE [Suspect]
     Active Substance: HYDROMORPHONE HYDROCHLORIDE
     Dosage: 6 MG, Q5H
     Route: 058
  176. HYDROMORPHONE HYDROCHLORIDE [Suspect]
     Active Substance: HYDROMORPHONE HYDROCHLORIDE
     Dosage: 1 MG, Q4H
     Route: 058
  177. ANTICOAGULANT SODIUM CITRATE [Suspect]
     Active Substance: SODIUM CITRATE
     Indication: Thrombosis
     Dosage: 2.5 ML
     Route: 065
     Dates: start: 20200603
  178. ATROVENT [Suspect]
     Active Substance: IPRATROPIUM BROMIDE
     Indication: Sleep disorder therapy
     Dosage: 1 DOSAGE FORM, Q6H
  179. ATROVENT [Suspect]
     Active Substance: IPRATROPIUM BROMIDE
     Indication: Dyspnoea
     Dosage: UNK (Q4D)
  180. ATROVENT [Suspect]
     Active Substance: IPRATROPIUM BROMIDE
     Dosage: UNK, QID
     Route: 065
  181. ATROVENT [Suspect]
     Active Substance: IPRATROPIUM BROMIDE
     Dosage: UNK, Q6H
     Route: 065
  182. ATROVENT [Suspect]
     Active Substance: IPRATROPIUM BROMIDE
     Dosage: 1 DOSAGE FORM, Q6H
     Route: 065
  183. ATROVENT [Suspect]
     Active Substance: IPRATROPIUM BROMIDE
     Dosage: UNK, Q8H
     Route: 065
  184. ATROVENT [Suspect]
     Active Substance: IPRATROPIUM BROMIDE
     Dosage: UNK
     Route: 050
  185. ATROVENT [Suspect]
     Active Substance: IPRATROPIUM BROMIDE
     Dosage: UNK
  186. ATROVENT [Suspect]
     Active Substance: IPRATROPIUM BROMIDE
     Dosage: UNK
  187. ATROVENT [Suspect]
     Active Substance: IPRATROPIUM BROMIDE
     Dosage: UNK, QID
     Route: 065
  188. ATROVENT [Suspect]
     Active Substance: IPRATROPIUM BROMIDE
     Dosage: 1 DOSAGE FORM
     Route: 065
  189. ATROVENT [Suspect]
     Active Substance: IPRATROPIUM BROMIDE
     Dosage: UNK
     Route: 065
  190. ATROVENT [Suspect]
     Active Substance: IPRATROPIUM BROMIDE
     Dosage: UNK
     Route: 065
  191. ATROVENT [Suspect]
     Active Substance: IPRATROPIUM BROMIDE
     Dosage: 1 DOSAGE FORM
     Route: 050
  192. ATROVENT [Suspect]
     Active Substance: IPRATROPIUM BROMIDE
     Dosage: 1 DOSAGE FORM
     Route: 050
  193. ATROVENT [Suspect]
     Active Substance: IPRATROPIUM BROMIDE
     Dosage: UNK
  194. ATROVENT [Suspect]
     Active Substance: IPRATROPIUM BROMIDE
     Dosage: UNK, QD
  195. ATROVENT [Suspect]
     Active Substance: IPRATROPIUM BROMIDE
     Dosage: 1 DOSAGE FORM
  196. ATROVENT [Suspect]
     Active Substance: IPRATROPIUM BROMIDE
     Dosage: UNK, QD
  197. ATROVENT [Suspect]
     Active Substance: IPRATROPIUM BROMIDE
     Dosage: UNK
     Route: 050
  198. ATROVENT [Suspect]
     Active Substance: IPRATROPIUM BROMIDE
     Dosage: 1 DOSAGE FORM
  199. ATROVENT [Suspect]
     Active Substance: IPRATROPIUM BROMIDE
     Dosage: UNK
     Route: 050
  200. ATROVENT [Suspect]
     Active Substance: IPRATROPIUM BROMIDE
     Dosage: UNK
     Route: 050
  201. ATROVENT [Suspect]
     Active Substance: IPRATROPIUM BROMIDE
     Dosage: UNK
     Route: 065
  202. ATROVENT [Suspect]
     Active Substance: IPRATROPIUM BROMIDE
     Dosage: UNK
  203. CALCITRIOL [Suspect]
     Active Substance: CALCITRIOL
     Indication: Vitamin D abnormal
     Dosage: 0.25 UG, QD
     Route: 048
     Dates: start: 20200528
  204. CALCITRIOL [Suspect]
     Active Substance: CALCITRIOL
     Dosage: 500 MG, Q8H
     Route: 048
  205. CALCITRIOL [Suspect]
     Active Substance: CALCITRIOL
     Dosage: UNK
     Route: 065
  206. CALCITRIOL [Suspect]
     Active Substance: CALCITRIOL
     Dosage: UNK, QD
     Route: 048
  207. CALCITRIOL [Suspect]
     Active Substance: CALCITRIOL
     Dosage: 0.25 MG
     Route: 048
  208. CALCITRIOL [Suspect]
     Active Substance: CALCITRIOL
     Dosage: 500 MG
     Route: 048
  209. CALCITRIOL [Suspect]
     Active Substance: CALCITRIOL
     Dosage: UNK
     Route: 065
  210. DISTIGMINE BROMIDE [Suspect]
     Active Substance: DISTIGMINE BROMIDE
     Indication: Dyspnoea
     Dosage: 1 IU, QD
     Route: 048
  211. DISTIGMINE BROMIDE [Suspect]
     Active Substance: DISTIGMINE BROMIDE
     Dosage: UNK
     Route: 065
  212. DEXTROSE [Suspect]
     Active Substance: DEXTROSE\DEXTROSE MONOHYDRATE
     Indication: Nutritional supplementation
     Dosage: 12.5 G, QD
     Route: 042
  213. DEXTROSE [Suspect]
     Active Substance: DEXTROSE\DEXTROSE MONOHYDRATE
     Dosage: 12.5 G (CONCENTRATION 10%)
     Route: 065
  214. DEXTROSE [Suspect]
     Active Substance: DEXTROSE\DEXTROSE MONOHYDRATE
     Dosage: 12.5 MG
     Route: 042
  215. DEXTROSE [Suspect]
     Active Substance: DEXTROSE\DEXTROSE MONOHYDRATE
     Dosage: 12.5 G, QD (LIQUID TRANSPLACENTAL, CONCENTRATION 10%)
     Route: 042
  216. DULCOLAX NOS [Suspect]
     Active Substance: BISACODYL OR DOCUSATE SODIUM
     Indication: Constipation
     Dosage: 10 MG, QD (AS REQUIRED)
     Route: 054
     Dates: start: 20200601
  217. HYDROMORPHONE [Suspect]
     Active Substance: HYDROMORPHONE
     Indication: Analgesic therapy
     Dosage: 96 MG, QD
     Route: 058
  218. HYDROMORPHONE [Suspect]
     Active Substance: HYDROMORPHONE
     Dosage: 1 MG, QD
     Route: 058
  219. HYDROMORPHONE [Suspect]
     Active Substance: HYDROMORPHONE
     Dosage: 24 MG, QD
     Route: 065
  220. HYDROMORPHONE [Suspect]
     Active Substance: HYDROMORPHONE
     Dosage: 6 MG, QD
     Route: 065
     Dates: start: 20200529
  221. HYDROMORPHONE [Suspect]
     Active Substance: HYDROMORPHONE
     Dosage: 6 MG
     Route: 058
  222. HYDROMORPHONE [Suspect]
     Active Substance: HYDROMORPHONE
     Dosage: 1 MG
     Route: 058
  223. HYDROMORPHONE [Suspect]
     Active Substance: HYDROMORPHONE
     Dosage: 17 MG
     Route: 065
  224. HYDROMORPHONE [Suspect]
     Active Substance: HYDROMORPHONE
     Dosage: UNK, QID
     Route: 058
  225. HYDROMORPHONE [Suspect]
     Active Substance: HYDROMORPHONE
     Dosage: 24 MG
     Route: 058
  226. HYDROMORPHONE [Suspect]
     Active Substance: HYDROMORPHONE
     Dosage: 6 MG
     Route: 058
  227. HYDROMORPHONE [Suspect]
     Active Substance: HYDROMORPHONE
     Dosage: 4 MG
     Route: 058
  228. HYDROMORPHONE [Suspect]
     Active Substance: HYDROMORPHONE
     Dosage: 6 MG
     Route: 058
  229. HYDROMORPHONE [Suspect]
     Active Substance: HYDROMORPHONE
     Dosage: 6 MG
     Route: 058
  230. FRAGMIN [Suspect]
     Active Substance: DALTEPARIN SODIUM
     Indication: Pulmonary embolism
     Dosage: 2.5 ML, PRN (SOLUTION FOR INJECTION)
     Route: 065
  231. FRAGMIN [Suspect]
     Active Substance: DALTEPARIN SODIUM
     Indication: Thrombosis
     Dosage: 2.5 ML
     Route: 065
  232. FRAGMIN [Suspect]
     Active Substance: DALTEPARIN SODIUM
     Dosage: 2.5 ML
     Route: 065
  233. FRAGMIN [Suspect]
     Active Substance: DALTEPARIN SODIUM
     Dosage: UNK (SOLUTION INTRAVENOUS)
     Route: 042
  234. FRAGMIN [Suspect]
     Active Substance: DALTEPARIN SODIUM
     Dosage: UNK
     Route: 048
  235. FRAGMIN [Suspect]
     Active Substance: DALTEPARIN SODIUM
     Dosage: UNK
     Route: 065
  236. GABAPENTIN [Suspect]
     Active Substance: GABAPENTIN
     Indication: Neuralgia
     Dosage: 100 MG, QD
     Route: 048
  237. GABAPENTIN [Suspect]
     Active Substance: GABAPENTIN
     Indication: Neuralgia
     Dosage: UNK, QD
     Route: 048
  238. GABAPENTIN [Suspect]
     Active Substance: GABAPENTIN
     Indication: Bacterial infection
     Dosage: 100 MG
     Route: 048
  239. GABAPENTIN [Suspect]
     Active Substance: GABAPENTIN
     Dosage: UNK
     Route: 065
  240. WARFARIN SODIUM [Suspect]
     Active Substance: WARFARIN SODIUM
     Indication: Thrombosis
     Dosage: 2 MG
     Route: 048
     Dates: start: 20200527
  241. WARFARIN SODIUM [Suspect]
     Active Substance: WARFARIN SODIUM
     Dosage: 2 G, QD
     Route: 048
  242. WARFARIN SODIUM [Suspect]
     Active Substance: WARFARIN SODIUM
     Dosage: 2 ML, QD
     Route: 048
  243. WARFARIN SODIUM [Suspect]
     Active Substance: WARFARIN SODIUM
     Dosage: 2 MG, QD
     Route: 048
  244. WARFARIN SODIUM [Suspect]
     Active Substance: WARFARIN SODIUM
     Dosage: 2 ML
     Route: 048
  245. WARFARIN SODIUM [Suspect]
     Active Substance: WARFARIN SODIUM
     Dosage: UNK, QD
     Route: 048
  246. WARFARIN SODIUM [Suspect]
     Active Substance: WARFARIN SODIUM
     Dosage: 2 ML, QD
     Route: 065
  247. WARFARIN SODIUM [Suspect]
     Active Substance: WARFARIN SODIUM
     Dosage: UNK
     Route: 048
  248. SODIUM PHOSPHATE, MONOBASIC [Suspect]
     Active Substance: SODIUM PHOSPHATE, MONOBASIC
     Indication: Constipation
     Dosage: 133 ML
     Route: 054
  249. SODIUM PHOSPHATE, MONOBASIC [Suspect]
     Active Substance: SODIUM PHOSPHATE, MONOBASIC
     Indication: Analgesic therapy
     Dosage: 133 ML
     Route: 054
  250. SODIUM PHOSPHATE, MONOBASIC [Suspect]
     Active Substance: SODIUM PHOSPHATE, MONOBASIC
     Dosage: 133 ML
     Route: 054
  251. SODIUM PHOSPHATE, MONOBASIC [Suspect]
     Active Substance: SODIUM PHOSPHATE, MONOBASIC
     Dosage: 10 MG
     Route: 054
  252. SODIUM PHOSPHATE, MONOBASIC [Suspect]
     Active Substance: SODIUM PHOSPHATE, MONOBASIC
     Dosage: UNK
     Route: 054
  253. SODIUM PHOSPHATE, MONOBASIC [Suspect]
     Active Substance: SODIUM PHOSPHATE, MONOBASIC
     Dosage: 133 ML
     Route: 065
  254. SODIUM PHOSPHATE, MONOBASIC [Suspect]
     Active Substance: SODIUM PHOSPHATE, MONOBASIC
     Dosage: 133 MG
     Route: 054
  255. SODIUM PHOSPHATE, MONOBASIC [Suspect]
     Active Substance: SODIUM PHOSPHATE, MONOBASIC
     Dosage: UNK
     Route: 065
  256. SODIUM PHOSPHATE, MONOBASIC [Suspect]
     Active Substance: SODIUM PHOSPHATE, MONOBASIC
     Dosage: 133 ML
     Route: 054
  257. SODIUM PHOSPHATE, MONOBASIC [Suspect]
     Active Substance: SODIUM PHOSPHATE, MONOBASIC
     Dosage: 133 ML, PRN
     Route: 054
  258. IPRATROPIUM BROMIDE [Suspect]
     Active Substance: IPRATROPIUM BROMIDE\IPRATROPIUM BROMIDE ANHYDROUS
     Indication: Dyspnoea
     Dosage: 1 DOSAGE FORM, Q6H (QD)
     Dates: start: 20200601
  259. IPRATROPIUM BROMIDE [Suspect]
     Active Substance: IPRATROPIUM BROMIDE\IPRATROPIUM BROMIDE ANHYDROUS
     Dosage: 1 DOSAGE FORM, QD
  260. IPRATROPIUM BROMIDE [Suspect]
     Active Substance: IPRATROPIUM BROMIDE\IPRATROPIUM BROMIDE ANHYDROUS
     Dosage: UNK, QD (4 IU)
     Route: 065
  261. IPRATROPIUM BROMIDE [Suspect]
     Active Substance: IPRATROPIUM BROMIDE\IPRATROPIUM BROMIDE ANHYDROUS
     Dosage: 3 DOSAGE FORM, QD (1 DOSAGE FORM,Q8H)
     Route: 050
  262. IPRATROPIUM BROMIDE [Suspect]
     Active Substance: IPRATROPIUM BROMIDE\IPRATROPIUM BROMIDE ANHYDROUS
     Dosage: UNK
     Route: 065
  263. IPRATROPIUM BROMIDE [Suspect]
     Active Substance: IPRATROPIUM BROMIDE\IPRATROPIUM BROMIDE ANHYDROUS
     Dosage: UNK, QD
     Route: 065
  264. IPRATROPIUM BROMIDE [Suspect]
     Active Substance: IPRATROPIUM BROMIDE\IPRATROPIUM BROMIDE ANHYDROUS
     Dosage: UNK, QD
     Route: 065
  265. IPRATROPIUM BROMIDE [Suspect]
     Active Substance: IPRATROPIUM BROMIDE\IPRATROPIUM BROMIDE ANHYDROUS
     Dosage: 1 DOSAGE FORM, QD
     Route: 065
  266. IPRATROPIUM BROMIDE [Suspect]
     Active Substance: IPRATROPIUM BROMIDE\IPRATROPIUM BROMIDE ANHYDROUS
     Dosage: 1 DOSAGE FORM, QD
     Route: 050
  267. IPRATROPIUM BROMIDE [Suspect]
     Active Substance: IPRATROPIUM BROMIDE\IPRATROPIUM BROMIDE ANHYDROUS
     Dosage: UNK, QD
     Route: 050
  268. IPRATROPIUM BROMIDE [Suspect]
     Active Substance: IPRATROPIUM BROMIDE\IPRATROPIUM BROMIDE ANHYDROUS
     Dosage: 1 DOSAGE FORM
     Route: 065
  269. IPRATROPIUM BROMIDE [Suspect]
     Active Substance: IPRATROPIUM BROMIDE\IPRATROPIUM BROMIDE ANHYDROUS
     Dosage: 1 DOSAGE FORM
  270. IPRATROPIUM BROMIDE [Suspect]
     Active Substance: IPRATROPIUM BROMIDE\IPRATROPIUM BROMIDE ANHYDROUS
     Dosage: UNK
  271. IPRATROPIUM BROMIDE [Suspect]
     Active Substance: IPRATROPIUM BROMIDE\IPRATROPIUM BROMIDE ANHYDROUS
     Dosage: 1 DOSAGE FORM, QD
     Route: 050
  272. IPRATROPIUM BROMIDE [Suspect]
     Active Substance: IPRATROPIUM BROMIDE\IPRATROPIUM BROMIDE ANHYDROUS
     Dosage: 1 DOSAGE FORM
     Route: 050
  273. IPRATROPIUM BROMIDE [Suspect]
     Active Substance: IPRATROPIUM BROMIDE\IPRATROPIUM BROMIDE ANHYDROUS
     Dosage: 1 DOSAGE FORM, QD
  274. IPRATROPIUM BROMIDE [Suspect]
     Active Substance: IPRATROPIUM BROMIDE\IPRATROPIUM BROMIDE ANHYDROUS
     Dosage: UNK, QD
     Route: 050
  275. IPRATROPIUM BROMIDE [Suspect]
     Active Substance: IPRATROPIUM BROMIDE\IPRATROPIUM BROMIDE ANHYDROUS
     Dosage: 1 DOSAGE FORM, QD
     Route: 065
  276. IPRATROPIUM BROMIDE [Suspect]
     Active Substance: IPRATROPIUM BROMIDE\IPRATROPIUM BROMIDE ANHYDROUS
     Dosage: UNK, QD
     Route: 050
  277. IPRATROPIUM BROMIDE [Suspect]
     Active Substance: IPRATROPIUM BROMIDE\IPRATROPIUM BROMIDE ANHYDROUS
     Dosage: UNK, QD
     Route: 065
  278. IPRATROPIUM BROMIDE [Suspect]
     Active Substance: IPRATROPIUM BROMIDE\IPRATROPIUM BROMIDE ANHYDROUS
     Dosage: UNK, QID
     Route: 065
  279. IPRATROPIUM BROMIDE [Suspect]
     Active Substance: IPRATROPIUM BROMIDE\IPRATROPIUM BROMIDE ANHYDROUS
     Dosage: UNK
     Route: 045
  280. IPRATROPIUM BROMIDE [Suspect]
     Active Substance: IPRATROPIUM BROMIDE\IPRATROPIUM BROMIDE ANHYDROUS
     Dosage: 1 DOSAGE FORM
     Route: 065
  281. IPRATROPIUM BROMIDE [Suspect]
     Active Substance: IPRATROPIUM BROMIDE\IPRATROPIUM BROMIDE ANHYDROUS
     Dosage: 1 DOSAGE FORM
     Route: 050
  282. IPRATROPIUM BROMIDE [Suspect]
     Active Substance: IPRATROPIUM BROMIDE\IPRATROPIUM BROMIDE ANHYDROUS
     Dosage: UNK
     Route: 065
  283. IPRATROPIUM BROMIDE [Suspect]
     Active Substance: IPRATROPIUM BROMIDE\IPRATROPIUM BROMIDE ANHYDROUS
     Dosage: UNK, QID
     Route: 065
  284. IPRATROPIUM BROMIDE [Suspect]
     Active Substance: IPRATROPIUM BROMIDE\IPRATROPIUM BROMIDE ANHYDROUS
     Dosage: 4 DOSAGE FORM, QD
  285. IPRATROPIUM BROMIDE [Suspect]
     Active Substance: IPRATROPIUM BROMIDE\IPRATROPIUM BROMIDE ANHYDROUS
     Dosage: 1 DOSAGE FORM
  286. IPRATROPIUM BROMIDE [Suspect]
     Active Substance: IPRATROPIUM BROMIDE\IPRATROPIUM BROMIDE ANHYDROUS
     Dosage: UNK, QD
  287. IPRATROPIUM BROMIDE [Suspect]
     Active Substance: IPRATROPIUM BROMIDE\IPRATROPIUM BROMIDE ANHYDROUS
     Dosage: UNK, QID
     Route: 050
  288. IPRATROPIUM BROMIDE [Suspect]
     Active Substance: IPRATROPIUM BROMIDE\IPRATROPIUM BROMIDE ANHYDROUS
     Dosage: UNK
  289. METRONIDAZOLE [Suspect]
     Active Substance: METRONIDAZOLE
     Indication: Bacterial infection
     Dosage: 500 UG, Q8H (TID) (1500 MG QD)
     Route: 048
     Dates: start: 20200530
  290. METRONIDAZOLE [Suspect]
     Active Substance: METRONIDAZOLE
     Dosage: 500 UG, QD
     Route: 048
  291. METRONIDAZOLE [Suspect]
     Active Substance: METRONIDAZOLE
     Dosage: 500 MG
     Route: 065
  292. METRONIDAZOLE [Suspect]
     Active Substance: METRONIDAZOLE
     Dosage: 1500 MG
     Route: 065
  293. METRONIDAZOLE [Suspect]
     Active Substance: METRONIDAZOLE
     Dosage: UNK, TID
     Route: 065
  294. METRONIDAZOLE [Suspect]
     Active Substance: METRONIDAZOLE
     Dosage: UNK
     Route: 065
  295. METRONIDAZOLE [Suspect]
     Active Substance: METRONIDAZOLE
     Dosage: 500 UG
     Route: 048
  296. METRONIDAZOLE [Suspect]
     Active Substance: METRONIDAZOLE
     Dosage: 500 MG, TID
     Route: 048
  297. METRONIDAZOLE [Suspect]
     Active Substance: METRONIDAZOLE
     Dosage: 1500 UG, QD
     Route: 048
  298. METRONIDAZOLE [Suspect]
     Active Substance: METRONIDAZOLE
     Dosage: 500 MG
     Route: 048
  299. METRONIDAZOLE [Suspect]
     Active Substance: METRONIDAZOLE
     Dosage: 500 MG, QD
     Route: 048
  300. POLYETHYLENE GLYCOL 3350 [Suspect]
     Active Substance: POLYETHYLENE GLYCOL 3350
     Indication: Constipation
     Dosage: 17 G, QD
     Route: 048
  301. POLYETHYLENE GLYCOL 3350 [Suspect]
     Active Substance: POLYETHYLENE GLYCOL 3350
     Dosage: UNK, QD
     Route: 048
  302. POLYETHYLENE GLYCOL 3350 [Suspect]
     Active Substance: POLYETHYLENE GLYCOL 3350
     Dosage: 17 G, QD
     Route: 048
  303. POLYETHYLENE GLYCOL 3350 [Suspect]
     Active Substance: POLYETHYLENE GLYCOL 3350
     Dosage: UNK
     Route: 048
  304. POLYETHYLENE GLYCOL 3350 [Suspect]
     Active Substance: POLYETHYLENE GLYCOL 3350
     Dosage: 3 MG
     Route: 048
  305. MELATONIN [Suspect]
     Active Substance: MELATONIN
     Indication: Sleep disorder therapy
     Dosage: 3 MG, QD
     Route: 048
     Dates: start: 20200527
  306. MELATONIN [Suspect]
     Active Substance: MELATONIN
     Dosage: UNK
     Route: 048
  307. MELATONIN [Suspect]
     Active Substance: MELATONIN
     Dosage: 3 MG
     Route: 048
  308. MELATONIN [Suspect]
     Active Substance: MELATONIN
     Dosage: 3 MG
     Route: 048
  309. NOVORAPID [Suspect]
     Active Substance: INSULIN ASPART
     Indication: Diabetes mellitus
     Dosage: UNK
     Route: 058
  310. PHYTONADIONE [Suspect]
     Active Substance: PHYTONADIONE
     Indication: Vitamin supplementation
     Dosage: 5 MG, QD
     Route: 042
  311. PHYTONADIONE [Suspect]
     Active Substance: PHYTONADIONE
     Dosage: 5 MG, PRN
     Route: 042
  312. PHYTONADIONE [Suspect]
     Active Substance: PHYTONADIONE
     Dosage: 5 MG, QD
     Route: 017
  313. PHYTONADIONE [Suspect]
     Active Substance: PHYTONADIONE
     Dosage: UNK
     Route: 042
  314. PHYTONADIONE [Suspect]
     Active Substance: PHYTONADIONE
     Dosage: 5 MG
     Route: 017
  315. PHYTONADIONE [Suspect]
     Active Substance: PHYTONADIONE
     Dosage: 5 MG
     Route: 042
  316. PICOLAX (ANHYDROUS CITRIC ACID\MAGNESIUM OXIDE\SODIUM PICOSULFATE) [Suspect]
     Active Substance: ANHYDROUS CITRIC ACID\MAGNESIUM OXIDE\SODIUM PICOSULFATE
     Indication: Constipation
     Dosage: 10 MG (POWDER FOR ORAL SOLUTION)
     Route: 054
  317. PYRIDOXINE HYDROCHLORIDE [Suspect]
     Active Substance: PYRIDOXINE HYDROCHLORIDE
     Indication: Vitamin supplementation
     Dosage: UNK, QID (COATED TABLET 50 MG)
     Route: 048
  318. PYRIDOXINE HYDROCHLORIDE [Suspect]
     Active Substance: PYRIDOXINE HYDROCHLORIDE
     Indication: Analgesic therapy
     Dosage: 10 MG, PRN (COATED TABLET 50 MG)
     Route: 048
  319. PYRIDOXINE HYDROCHLORIDE [Suspect]
     Active Substance: PYRIDOXINE HYDROCHLORIDE
     Indication: Constipation
     Dosage: UNK, QID
     Route: 048
  320. PYRIDOXINE HYDROCHLORIDE [Suspect]
     Active Substance: PYRIDOXINE HYDROCHLORIDE
     Dosage: UNK
     Route: 048
  321. PYRIDOXINE HYDROCHLORIDE [Suspect]
     Active Substance: PYRIDOXINE HYDROCHLORIDE
     Dosage: UNK
     Route: 065
  322. PYRIDOXINE HYDROCHLORIDE [Suspect]
     Active Substance: PYRIDOXINE HYDROCHLORIDE
     Dosage: UNK, QD (CAPSULE)
     Route: 048
  323. PYRIDOXINE HYDROCHLORIDE [Suspect]
     Active Substance: PYRIDOXINE HYDROCHLORIDE
     Dosage: UNK, QID (CAPSULE)
     Route: 048
  324. PYRIDOXINE HYDROCHLORIDE [Suspect]
     Active Substance: PYRIDOXINE HYDROCHLORIDE
     Dosage: UNK
     Route: 048
  325. PYRIDOXINE HYDROCHLORIDE [Suspect]
     Active Substance: PYRIDOXINE HYDROCHLORIDE
     Dosage: UNK, QD
     Route: 048
  326. PYRIDOXINE HYDROCHLORIDE [Suspect]
     Active Substance: PYRIDOXINE HYDROCHLORIDE
     Dosage: UNK (TABLET)
     Route: 048
  327. TRESIBA [Suspect]
     Active Substance: INSULIN DEGLUDEC
     Indication: Diabetes mellitus
     Dosage: 1 DOSAGE FORM, QD
     Route: 058
  328. UMECLIDINIUM BROMIDE [Suspect]
     Active Substance: UMECLIDINIUM BROMIDE
     Indication: Dyspnoea
     Dosage: 1 IU, QD
     Route: 048
  329. UMECLIDINIUM BROMIDE [Suspect]
     Active Substance: UMECLIDINIUM BROMIDE
     Dosage: 1 DOSAGE FORM
     Route: 048
  330. UMECLIDINIUM BROMIDE [Suspect]
     Active Substance: UMECLIDINIUM BROMIDE
     Dosage: UNK, QD
     Route: 048
  331. UMECLIDINIUM BROMIDE [Suspect]
     Active Substance: UMECLIDINIUM BROMIDE
     Dosage: UNK
     Route: 065
  332. UMECLIDINIUM BROMIDE [Suspect]
     Active Substance: UMECLIDINIUM BROMIDE
     Dosage: 1 IU
     Route: 048
  333. UMECLIDINIUM BROMIDE [Suspect]
     Active Substance: UMECLIDINIUM BROMIDE
     Dosage: 1 IU, QD
     Route: 048
  334. UMECLIDINIUM BROMIDE [Suspect]
     Active Substance: UMECLIDINIUM BROMIDE
     Dosage: UNK
     Route: 065
  335. UMECLIDINIUM BROMIDE [Suspect]
     Active Substance: UMECLIDINIUM BROMIDE
     Dosage: 1 IU, QD
     Route: 048
  336. ALLANTOIN [Suspect]
     Active Substance: ALLANTOIN
     Indication: Constipation
     Dosage: 17 G, QD
     Route: 048
  337. ALLOPURINOL [Suspect]
     Active Substance: ALLOPURINOL
     Indication: Blood uric acid increased
     Dosage: UNK
     Route: 048
     Dates: start: 20200527
  338. ALLOPURINOL [Suspect]
     Active Substance: ALLOPURINOL
     Dosage: 1 DOSAGE FORM, QD
     Route: 048
  339. ALLOPURINOL [Suspect]
     Active Substance: ALLOPURINOL
     Dosage: 100 MG, QD
     Route: 048
  340. ALLOPURINOL [Suspect]
     Active Substance: ALLOPURINOL
     Dosage: UNK
     Route: 065
  341. ALLOPURINOL [Suspect]
     Active Substance: ALLOPURINOL
     Dosage: UNK
     Route: 065
  342. ALLOPURINOL [Suspect]
     Active Substance: ALLOPURINOL
     Dosage: 100 MG
     Route: 065
  343. ALLOPURINOL [Suspect]
     Active Substance: ALLOPURINOL
     Dosage: 1 DOSAGE FORM, QD
     Route: 048
  344. ALLOPURINOL [Suspect]
     Active Substance: ALLOPURINOL
     Dosage: 100 MG, QD
     Route: 048
  345. ALOE VERA LEAF [Suspect]
     Active Substance: ALOE VERA LEAF
     Indication: Constipation
     Dosage: UNK
     Route: 065
  346. AMMONIUM CHLORIDE [Suspect]
     Active Substance: AMMONIUM CHLORIDE
     Indication: Thrombosis
     Dosage: 2.5 ML, PRN
     Route: 048
  347. AMMONIUM CHLORIDE [Suspect]
     Active Substance: AMMONIUM CHLORIDE
     Dosage: 2.5 ML
     Route: 048
  348. AMMONIUM CHLORIDE [Suspect]
     Active Substance: AMMONIUM CHLORIDE
     Dosage: 2.5 ML
     Route: 048
  349. AMMONIUM CHLORIDE [Suspect]
     Active Substance: AMMONIUM CHLORIDE
     Dosage: 2.5 ML
     Route: 048
  350. AMMONIUM CHLORIDE [Suspect]
     Active Substance: AMMONIUM CHLORIDE
     Dosage: 2.5 ML, QD
     Route: 048
  351. AMMONIUM CHLORIDE [Suspect]
     Active Substance: AMMONIUM CHLORIDE
     Dosage: UNK
     Route: 065
  352. BISMUTH [Suspect]
     Active Substance: BISMUTH
     Indication: Constipation
     Dosage: UNK, PRN (BISMUTH;BUFEXAMAC;LIDOCAINE;TITANIUM  DIOXIDE) (133 ML)
     Route: 054
  353. BUFEXAMAC [Suspect]
     Active Substance: BUFEXAMAC
     Indication: Constipation
     Dosage: UNK, PRN (BISMUTH;BUFEXAMAC;LIDOCAINE;TITANIUM  DIOXIDE) (133 ML)
     Route: 054
  354. SAFFLOWER [Suspect]
     Active Substance: SAFFLOWER
     Indication: Constipation
     Dosage: UNK
     Route: 065
  355. CHLORAMPHENICOL [Suspect]
     Active Substance: CHLORAMPHENICOL
     Indication: Bacterial infection
     Dosage: 500 MG
     Route: 065
  356. CHLORAMPHENICOL [Suspect]
     Active Substance: CHLORAMPHENICOL
     Dosage: 1500 MG
     Route: 065
  357. CHLORPHENIRAMINE MALEATE [Suspect]
     Active Substance: CHLORPHENIRAMINE MALEATE
     Indication: Thrombosis
     Dosage: UNK
     Route: 065
  358. CHLORPHENIRAMINE MALEATE [Suspect]
     Active Substance: CHLORPHENIRAMINE MALEATE
     Dosage: 2.5 ML
     Route: 048
  359. CHLORPHENIRAMINE MALEATE [Suspect]
     Active Substance: CHLORPHENIRAMINE MALEATE
     Dosage: 2.5 ML, QD
     Route: 048
  360. CITRIC ACID [Suspect]
     Active Substance: CITRIC ACID MONOHYDRATE
     Indication: Nutritional supplementation
     Dosage: UNK
     Route: 065
  361. DALTEPARIN SODIUM [Suspect]
     Active Substance: DALTEPARIN SODIUM
     Indication: Pulmonary embolism
     Dosage: UNK
     Route: 065
     Dates: start: 20200526
  362. DALTEPARIN SODIUM [Suspect]
     Active Substance: DALTEPARIN SODIUM
     Indication: Thrombosis
     Dosage: UNK
     Route: 048
  363. DALTEPARIN SODIUM [Suspect]
     Active Substance: DALTEPARIN SODIUM
     Dosage: 2.5 ML
     Route: 048
  364. DALTEPARIN SODIUM [Suspect]
     Active Substance: DALTEPARIN SODIUM
     Dosage: 2.5 ML
     Route: 065
  365. DALTEPARIN SODIUM [Suspect]
     Active Substance: DALTEPARIN SODIUM
     Dosage: 2.5 ML
     Route: 042
  366. BETAMETHASONE DIPROPIONATE\CLIOQUINOL [Suspect]
     Active Substance: BETAMETHASONE DIPROPIONATE\CLIOQUINOL
     Indication: Swelling
     Dosage: UNK
     Route: 061
  367. .ALPHA.-TOCOPHEROL, DL- [Suspect]
     Active Substance: .ALPHA.-TOCOPHEROL, DL-
     Indication: Nutritional supplementation
     Dosage: UNK
     Route: 042
  368. FENOTEROL HYDROBROMIDE [Suspect]
     Active Substance: FENOTEROL HYDROBROMIDE
     Indication: Dyspnoea
     Dosage: UNK
     Route: 065
  369. SODIUM FERRIC GLUCONATE COMPLEX [Suspect]
     Active Substance: SODIUM FERRIC GLUCONATE COMPLEX
     Indication: Iron deficiency
     Dosage: UNK
     Route: 042
  370. FERRLECIT [Suspect]
     Active Substance: SODIUM FERRIC GLUCONATE COMPLEX
     Indication: Iron deficiency
     Dosage: UNK
     Route: 042
     Dates: start: 20200527
  371. FERRLECIT [Suspect]
     Active Substance: SODIUM FERRIC GLUCONATE COMPLEX
     Dosage: 125 MG, Q4W
     Route: 042
  372. FERRLECIT [Suspect]
     Active Substance: SODIUM FERRIC GLUCONATE COMPLEX
     Dosage: 4.64 MG, Q4W
     Route: 042
  373. FERRLECIT [Suspect]
     Active Substance: SODIUM FERRIC GLUCONATE COMPLEX
     Dosage: 17.85 MG, QW
     Route: 042
  374. FERRLECIT [Suspect]
     Active Substance: SODIUM FERRIC GLUCONATE COMPLEX
     Dosage: 125 MG, QW
     Route: 042
  375. PSYLLIUM HUSK [Suspect]
     Active Substance: PSYLLIUM HUSK
     Indication: Vitamin supplementation
     Dosage: UNK
     Route: 042
  376. FURAZOLIDONE [Suspect]
     Active Substance: FURAZOLIDONE
     Indication: Product used for unknown indication
     Dosage: UNK
     Route: 065
  377. GLYCERYL MONOSTEARATE [Suspect]
     Active Substance: GLYCERYL MONOSTEARATE
     Indication: Constipation
     Dosage: UNK
     Route: 065
  378. UNSPECIFIED INGREDIENT [Suspect]
     Active Substance: UNSPECIFIED INGREDIENT
     Indication: Anticoagulant therapy
     Dosage: 250 ML, QD
     Route: 042
  379. HYDROCORTISONE ACETATE [Suspect]
     Active Substance: HYDROCORTISONE ACETATE
     Indication: Bacterial infection
     Dosage: 500 MG
     Route: 065
  380. HYDROCORTISONE ACETATE [Suspect]
     Active Substance: HYDROCORTISONE ACETATE
     Dosage: 1500 MG
     Route: 065
  381. INSULIN ASPART [Suspect]
     Active Substance: INSULIN ASPART
     Indication: Diabetes mellitus
     Dosage: UNK
     Route: 058
     Dates: start: 20200527
  382. INSULIN ASPART [Suspect]
     Active Substance: INSULIN ASPART
     Dosage: UNK
     Route: 065
  383. INSULIN DEGLUDEC [Suspect]
     Active Substance: INSULIN DEGLUDEC
     Indication: Diabetes mellitus
     Dosage: UNK
     Route: 058
     Dates: start: 20200527
  384. INSULIN DEGLUDEC [Suspect]
     Active Substance: INSULIN DEGLUDEC
     Dosage: 1 DOSAGE FORM, QD (1 MG/DL3)
     Route: 058
  385. INSULIN DEGLUDEC [Suspect]
     Active Substance: INSULIN DEGLUDEC
     Dosage: UNK
     Route: 065
  386. ISOPROPYL MYRISTATE [Suspect]
     Active Substance: ISOPROPYL MYRISTATE
     Indication: Constipation
     Dosage: UNK
     Route: 065
  387. LANTHANUM CARBONATE [Suspect]
     Active Substance: LANTHANUM CARBONATE
     Indication: Hyperphosphataemia
     Dosage: UNK
     Route: 065
     Dates: start: 20200527
  388. LANTHANUM CARBONATE [Suspect]
     Active Substance: LANTHANUM CARBONATE
     Indication: Blood phosphorus increased
     Dosage: 500 MG, QD
     Route: 048
  389. LANTHANUM CARBONATE [Suspect]
     Active Substance: LANTHANUM CARBONATE
     Dosage: 550 MG, QD
     Route: 048
  390. LANTHANUM CARBONATE [Suspect]
     Active Substance: LANTHANUM CARBONATE
     Dosage: 500 MG, QD
     Route: 048
  391. LANTHANUM CARBONATE [Suspect]
     Active Substance: LANTHANUM CARBONATE
     Dosage: 550 MG
     Route: 048
  392. LANTHANUM CARBONATE [Suspect]
     Active Substance: LANTHANUM CARBONATE
     Dosage: 550 MG, QD
     Route: 048
  393. LANTHANUM CARBONATE [Suspect]
     Active Substance: LANTHANUM CARBONATE
     Dosage: UNK
     Route: 065
  394. LANTHANUM CARBONATE [Suspect]
     Active Substance: LANTHANUM CARBONATE
     Dosage: 500 UG, QD
     Route: 048
  395. LANTHANUM CARBONATE [Suspect]
     Active Substance: LANTHANUM CARBONATE
     Dosage: 500 MG
     Route: 048
  396. LANTHANUM CARBONATE [Suspect]
     Active Substance: LANTHANUM CARBONATE
     Dosage: UNK
     Route: 048
  397. LANTHANUM CARBONATE [Suspect]
     Active Substance: LANTHANUM CARBONATE
     Dosage: 500 MG, QD
     Route: 048
  398. LANTHANUM CARBONATE [Suspect]
     Active Substance: LANTHANUM CARBONATE
     Dosage: 500 MG
     Route: 048
  399. LANTHANUM CARBONATE [Suspect]
     Active Substance: LANTHANUM CARBONATE
     Dosage: 550 MG, QD
     Route: 048
  400. LANTHANUM CARBONATE [Suspect]
     Active Substance: LANTHANUM CARBONATE
     Dosage: 500 UG
     Route: 048
  401. LIDOCAINE [Suspect]
     Active Substance: LIDOCAINE
     Indication: Constipation
     Dosage: UNK, PRN (BISMUTH;BUFEXAMAC;LIDOCAINE;TITANIUM  DIOXIDE) (133 ML)
     Route: 054
  402. LUTEIN [Suspect]
     Active Substance: LUTEIN
     Indication: Nutritional supplementation
     Dosage: 12.5 G, PRN
     Route: 042
  403. POLYETHYLENE GLYCOLS [Suspect]
     Active Substance: POLYETHYLENE GLYCOLS
     Indication: Constipation
     Dosage: 17 G, QD
     Route: 048
     Dates: start: 20200601
  404. POLYETHYLENE GLYCOLS [Suspect]
     Active Substance: POLYETHYLENE GLYCOLS
     Dosage: UNK
     Route: 048
     Dates: start: 20200602
  405. MALTOSE [Suspect]
     Active Substance: MALTOSE
     Indication: Nutritional supplementation
     Dosage: 12.5 G
     Route: 042
  406. METAMIZOLE SODIUM [Suspect]
     Active Substance: METAMIZOLE SODIUM
     Indication: Vitamin supplementation
     Dosage: 5 MG
     Route: 042
  407. MAALOX ANTACID [Suspect]
     Active Substance: ALUMINUM HYDROXIDE\DIMETHICONE\MAGNESIUM HYDROXIDE
     Indication: Constipation
     Dosage: 133 ML, PRN (AS NECESSARY)
     Route: 054
  408. NATAMYCIN [Suspect]
     Active Substance: NATAMYCIN
     Indication: Bacterial infection
     Dosage: UNK
     Route: 065
  409. OSELTAMIVIR PHOSPHATE [Suspect]
     Active Substance: OSELTAMIVIR PHOSPHATE
     Indication: Product used for unknown indication
     Dosage: 133 ML
     Route: 054
  410. OSELTAMIVIR PHOSPHATE [Suspect]
     Active Substance: OSELTAMIVIR PHOSPHATE
     Dosage: 12.5 MG
     Route: 042
  411. OSELTAMIVIR PHOSPHATE [Suspect]
     Active Substance: OSELTAMIVIR PHOSPHATE
     Dosage: UNK
     Route: 065
  412. OSELTAMIVIR PHOSPHATE [Suspect]
     Active Substance: OSELTAMIVIR PHOSPHATE
     Dosage: UNK
     Route: 065
  413. OTRIVIN [Suspect]
     Active Substance: XYLOMETAZOLINE
     Indication: Dyspnoea
     Dosage: UNK
  414. PANTHENOL [Suspect]
     Active Substance: PANTHENOL
     Indication: Constipation
     Dosage: UNK
     Route: 065
  415. HERBALS\PAULLINIA CUPANA SEED [Suspect]
     Active Substance: HERBALS\PAULLINIA CUPANA SEED
     Indication: Nutritional supplementation
     Dosage: 17 MG
     Route: 048
  416. HERBALS\PAULLINIA CUPANA SEED [Suspect]
     Active Substance: HERBALS\PAULLINIA CUPANA SEED
     Dosage: 12.5 MG
     Route: 042
  417. HERBALS\PAULLINIA CUPANA SEED [Suspect]
     Active Substance: HERBALS\PAULLINIA CUPANA SEED
     Dosage: UNK
     Route: 065
  418. HERBALS\PAULLINIA CUPANA SEED [Suspect]
     Active Substance: HERBALS\PAULLINIA CUPANA SEED
     Dosage: 5 MG
     Route: 017
  419. HERBALS\PAULLINIA CUPANA SEED [Suspect]
     Active Substance: HERBALS\PAULLINIA CUPANA SEED
     Dosage: 5 MG
     Route: 042
  420. PHENOXYETHANOL [Suspect]
     Active Substance: PHENOXYETHANOL
     Indication: Constipation
     Dosage: UNK
     Route: 065
  421. POTASSIUM CHLORATE [Suspect]
     Active Substance: POTASSIUM CHLORATE
     Indication: Constipation
     Dosage: 17 MG, QD
     Route: 048
  422. POTASSIUM CHLORATE [Suspect]
     Active Substance: POTASSIUM CHLORATE
     Dosage: 17 G, QD
     Route: 048
  423. POTASSIUM CHLORATE [Suspect]
     Active Substance: POTASSIUM CHLORATE
     Dosage: UNK
     Route: 065
  424. POTASSIUM CHLORATE [Suspect]
     Active Substance: POTASSIUM CHLORATE
     Dosage: UNK
     Route: 065
  425. PREVACID [Suspect]
     Active Substance: LANSOPRAZOLE
     Indication: Antacid therapy
     Dosage: UNK
     Route: 048
     Dates: start: 20200527
  426. PREVACID [Suspect]
     Active Substance: LANSOPRAZOLE
     Dosage: 30 MG, QD
     Route: 065
  427. VITAMIN A PALMITATE [Suspect]
     Active Substance: VITAMIN A PALMITATE
     Indication: Constipation
     Dosage: UNK
     Route: 065
  428. PYRIDOXINE HYDROCHLORIDE [Suspect]
     Active Substance: PYRIDOXINE HYDROCHLORIDE
     Indication: Vitamin supplementation
     Dosage: UNK
     Route: 048
     Dates: start: 20200527
  429. ALBUTEROL SULFATE [Suspect]
     Active Substance: ALBUTEROL SULFATE
     Indication: Chronic obstructive pulmonary disease
     Dosage: UNK
     Dates: start: 20200601
  430. HERBALS [Suspect]
     Active Substance: HERBALS
     Indication: Constipation
     Dosage: UNK
     Route: 065
  431. SODIUM CITRATE [Suspect]
     Active Substance: SODIUM CITRATE
     Indication: Anticoagulant therapy
     Dosage: 2.5 ML, PRN
     Route: 065
  432. SODIUM CITRATE [Suspect]
     Active Substance: SODIUM CITRATE
     Dosage: 2.5 MG, QD
     Route: 065
  433. SODIUM CITRATE [Suspect]
     Active Substance: SODIUM CITRATE
     Dosage: 2 G, QD
     Route: 065
  434. SODIUM CITRATE [Suspect]
     Active Substance: SODIUM CITRATE
     Dosage: 2.5 ML
     Route: 065
  435. SODIUM CITRATE [Suspect]
     Active Substance: SODIUM CITRATE
     Dosage: 2 G
     Route: 065
  436. SODIUM BICARBONATE [Suspect]
     Active Substance: SODIUM BICARBONATE
     Indication: Nutritional supplementation
     Dosage: UNK
     Route: 065
  437. SODIUM PICOSULFATE [Suspect]
     Active Substance: SODIUM PICOSULFATE
     Indication: Analgesic therapy
     Dosage: 10 MG, PRN
     Route: 054
  438. SODIUM PICOSULFATE [Suspect]
     Active Substance: SODIUM PICOSULFATE
     Indication: Constipation
     Dosage: 12.5 MG
     Route: 065
  439. SODIUM PICOSULFATE [Suspect]
     Active Substance: SODIUM PICOSULFATE
     Dosage: 10 MG
     Route: 054
  440. SODIUM PICOSULFATE [Suspect]
     Active Substance: SODIUM PICOSULFATE
     Dosage: UNK
     Route: 054
  441. SODIUM PICOSULFATE [Suspect]
     Active Substance: SODIUM PICOSULFATE
     Dosage: 10 MG
     Route: 065
  442. SODIUM PICOSULFATE [Suspect]
     Active Substance: SODIUM PICOSULFATE
     Dosage: UNK
     Route: 065
  443. SODIUM PICOSULFATE [Suspect]
     Active Substance: SODIUM PICOSULFATE
     Dosage: 10 MG
     Route: 054
  444. SODIUM PICOSULFATE [Suspect]
     Active Substance: SODIUM PICOSULFATE
     Dosage: 10 MG
     Route: 065
  445. STEARIC ACID [Suspect]
     Active Substance: STEARIC ACID
     Indication: Constipation
     Dosage: UNK
     Route: 065
  446. STEARYL ALCOHOL [Suspect]
     Active Substance: STEARYL ALCOHOL
     Indication: Constipation
     Dosage: UNK
     Route: 065
  447. TITANIUM DIOXIDE [Suspect]
     Active Substance: TITANIUM DIOXIDE
     Indication: Constipation
     Dosage: UNK UNK, PRN (BISMUTH;BUFEXAMAC;LIDOCAINE;TITANIUM  DIOXIDE) (133 ML)
     Route: 054
  448. VILANTEROL [Suspect]
     Active Substance: VILANTEROL
     Indication: Dyspnoea
     Dosage: UNK
     Route: 048
     Dates: start: 20200527
  449. VILANTEROL TRIFENATATE [Suspect]
     Active Substance: VILANTEROL TRIFENATATE
     Indication: Dyspnoea
     Dosage: UNK (1 IU), QD
     Route: 048
  450. VILANTEROL TRIFENATATE [Suspect]
     Active Substance: VILANTEROL TRIFENATATE
     Indication: Nutritional supplementation
     Dosage: UNK (1 IU)
     Route: 048
  451. VILANTEROL TRIFENATATE [Suspect]
     Active Substance: VILANTEROL TRIFENATATE
     Dosage: UNK
     Route: 065
  452. VILANTEROL TRIFENATATE [Suspect]
     Active Substance: VILANTEROL TRIFENATATE
     Dosage: UNK
     Route: 058
  453. VILANTEROL TRIFENATATE [Suspect]
     Active Substance: VILANTEROL TRIFENATATE
     Dosage: UNK
     Route: 065
  454. VILANTEROL TRIFENATATE [Suspect]
     Active Substance: VILANTEROL TRIFENATATE
     Dosage: UNK (1 IU), QD
     Route: 048
  455. CALCIUM CARBONATE [Suspect]
     Active Substance: CALCIUM CARBONATE
     Indication: Product used for unknown indication
     Dosage: UNK
     Route: 065
  456. ZOCOR [Suspect]
     Active Substance: SIMVASTATIN
     Indication: Blood cholesterol increased
     Dosage: 40 MG, QD
     Route: 048
  457. FENOTEROL HYDROBROMIDE [Suspect]
     Active Substance: FENOTEROL HYDROBROMIDE
     Indication: Product used for unknown indication
     Dosage: UNK
     Route: 065
  458. FLUTICASONE FUROATE [Suspect]
     Active Substance: FLUTICASONE FUROATE
     Indication: Nutritional supplementation
     Dosage: (1 IU)
     Route: 048
  459. FLUTICASONE FUROATE [Suspect]
     Active Substance: FLUTICASONE FUROATE
     Indication: Dyspnoea
     Dosage: UNK
     Route: 065
  460. FLUTICASONE FUROATE [Suspect]
     Active Substance: FLUTICASONE FUROATE
     Dosage: UNK, QD (1 IU)
     Route: 048
  461. FLUTICASONE FUROATE [Suspect]
     Active Substance: FLUTICASONE FUROATE
     Dosage: UNK
     Route: 058
  462. FLUTICASONE FUROATE [Suspect]
     Active Substance: FLUTICASONE FUROATE
     Dosage: UNK
     Route: 065
  463. MANNITOL [Suspect]
     Active Substance: MANNITOL
     Indication: Nutritional supplementation
     Dosage: 12.5 G
     Route: 042
  464. GLYCINE MAX WHOLE [Suspect]
     Active Substance: GLYCINE MAX WHOLE
     Indication: Constipation
     Dosage: UNK
     Route: 065
  465. DEXLANSOPRAZOLE [Suspect]
     Active Substance: DEXLANSOPRAZOLE
     Indication: Product used for unknown indication
     Dosage: UNK COATED TABLET
     Route: 065
  466. DEXLANSOPRAZOLE [Suspect]
     Active Substance: DEXLANSOPRAZOLE
     Dosage: UNK (CAPSULE DELAYED RELEASE)
     Route: 065
  467. PROPYLENE GLYCOL [Suspect]
     Active Substance: PROPYLENE GLYCOL
     Indication: Product used for unknown indication
     Route: 065
  468. ARANESP [Suspect]
     Active Substance: DARBEPOETIN ALFA
     Indication: Anaemia
     Dosage: 0.71 UG, QW2 (SOLUTION INTRAVENOUS)
     Route: 042
     Dates: start: 20200528
  469. ARANESP [Suspect]
     Active Substance: DARBEPOETIN ALFA
     Dosage: 10 UG, QW2 (SOLUTION INTRAVENOUS)
     Route: 042
  470. ARANESP [Suspect]
     Active Substance: DARBEPOETIN ALFA
     Dosage: 20 UG, QW
     Route: 042
  471. ARANESP [Suspect]
     Active Substance: DARBEPOETIN ALFA
     Dosage: 1.42 UG, QW
     Route: 042
  472. ARANESP [Suspect]
     Active Substance: DARBEPOETIN ALFA
     Dosage: 0.2 UG, QW,INTRAVENOUS (NOT OTHERWISE SPECIFIED)
     Route: 042
  473. ARANESP [Suspect]
     Active Substance: DARBEPOETIN ALFA
     Dosage: 10 UG, CYCLIC
     Route: 042
  474. ARANESP [Suspect]
     Active Substance: DARBEPOETIN ALFA
     Dosage: 1.42 UG INTRAVENOUS (NOT OTHERWISE SPECIFIED)
     Route: 042
  475. ARANESP [Suspect]
     Active Substance: DARBEPOETIN ALFA
     Dosage: 20 MG, QW INTRAVENOUS (NOT OTHERWISE SPECIFIED)
     Route: 042
  476. ARANESP [Suspect]
     Active Substance: DARBEPOETIN ALFA
     Dosage: 10 MG
     Route: 042
  477. ARANESP [Suspect]
     Active Substance: DARBEPOETIN ALFA
     Dosage: 0.71 UG,INTRAVENOUS (NOT OTHERWISE SPECIFIED)
     Route: 042
  478. ARANESP [Suspect]
     Active Substance: DARBEPOETIN ALFA
     Dosage: 1.42 MG, QW (INTRAVENOUS (NOT OTHERWISE SPECIFIED
     Route: 042
  479. ARANESP [Suspect]
     Active Substance: DARBEPOETIN ALFA
     Dosage: 0.71 MG,INTRAVENOUS (NOT OTHERWISE SPECIFIED)
     Route: 042
  480. ARANESP [Suspect]
     Active Substance: DARBEPOETIN ALFA
     Dosage: 0.71 UG,INTRAVENOUS (NOT OTHERWISE SPECIFIED)
     Route: 042
  481. ARANESP [Suspect]
     Active Substance: DARBEPOETIN ALFA
     Dosage: UNK
     Route: 042
  482. ARANESP [Suspect]
     Active Substance: DARBEPOETIN ALFA
     Dosage: UNK
     Route: 042
  483. RIBOFLAVIN 5^-PHOSPHATE SODIUM ANHYDROUS [Suspect]
     Active Substance: RIBOFLAVIN 5^-PHOSPHATE SODIUM ANHYDROUS
     Indication: Constipation
     Dosage: 17 G, QD
     Route: 048
  484. DIPYRONE [Suspect]
     Active Substance: DIPYRONE
     Indication: Vitamin supplementation
     Dosage: 5 MG, QD
     Route: 042
  485. DIPYRONE [Suspect]
     Active Substance: DIPYRONE
     Dosage: UNK
     Route: 065
  486. DIPYRONE [Suspect]
     Active Substance: DIPYRONE
     Dosage: UNK (CAPSULE)
     Route: 065
  487. DIPYRONE [Suspect]
     Active Substance: DIPYRONE
     Dosage: 5 MG
     Route: 042
  488. DIPYRONE [Suspect]
     Active Substance: DIPYRONE
     Dosage: 5 MG
     Route: 042
  489. DIPYRONE [Suspect]
     Active Substance: DIPYRONE
     Dosage: UNK (CAPSULE)
     Route: 065
  490. DIPYRONE [Suspect]
     Active Substance: DIPYRONE
     Dosage: UNK
     Route: 065
  491. HERBALS\PAULLINIA CUPANA SEED [Suspect]
     Active Substance: HERBALS\PAULLINIA CUPANA SEED
     Indication: Product used for unknown indication
     Dosage: UNK
     Route: 065
  492. SODIUM FERRIC GLUCONATE COMPLEX [Suspect]
     Active Substance: SODIUM FERRIC GLUCONATE COMPLEX
     Indication: Iron deficiency
     Dosage: 4.64 MG
     Route: 065
  493. SODIUM FERRIC GLUCONATE COMPLEX [Suspect]
     Active Substance: SODIUM FERRIC GLUCONATE COMPLEX
     Dosage: 125 MG
     Route: 042
  494. SODIUM FERRIC GLUCONATE COMPLEX [Suspect]
     Active Substance: SODIUM FERRIC GLUCONATE COMPLEX
     Dosage: 17.85 MG
     Route: 042
  495. SODIUM FERRIC GLUCONATE COMPLEX [Suspect]
     Active Substance: SODIUM FERRIC GLUCONATE COMPLEX
     Dosage: 1.25 MG
     Route: 042
  496. SODIUM FERRIC GLUCONATE COMPLEX [Suspect]
     Active Substance: SODIUM FERRIC GLUCONATE COMPLEX
     Dosage: 17.85 MG
     Route: 042
  497. SODIUM FERRIC GLUCONATE COMPLEX [Suspect]
     Active Substance: SODIUM FERRIC GLUCONATE COMPLEX
     Dosage: UNK
     Route: 042
  498. SODIUM FERRIC GLUCONATE COMPLEX [Suspect]
     Active Substance: SODIUM FERRIC GLUCONATE COMPLEX
     Dosage: 133 ML
     Route: 054
  499. SODIUM FERRIC GLUCONATE COMPLEX [Suspect]
     Active Substance: SODIUM FERRIC GLUCONATE COMPLEX
     Dosage: 125 MG, QD
     Route: 042
  500. SODIUM FERRIC GLUCONATE COMPLEX [Suspect]
     Active Substance: SODIUM FERRIC GLUCONATE COMPLEX
     Dosage: 125 MG
     Route: 042
  501. SODIUM FERRIC GLUCONATE COMPLEX [Suspect]
     Active Substance: SODIUM FERRIC GLUCONATE COMPLEX
     Dosage: UNK
     Route: 065
  502. SODIUM FERRIC GLUCONATE COMPLEX [Suspect]
     Active Substance: SODIUM FERRIC GLUCONATE COMPLEX
     Dosage: 125 MG
     Route: 042
  503. SODIUM FERRIC GLUCONATE COMPLEX [Suspect]
     Active Substance: SODIUM FERRIC GLUCONATE COMPLEX
     Dosage: 4.64 MG
     Route: 042
  504. DOCUSATE SODIUM [Suspect]
     Active Substance: DOCUSATE SODIUM
     Indication: Product used for unknown indication
     Dosage: UNK
     Route: 065
  505. MAGNESIUM OXIDE [Suspect]
     Active Substance: MAGNESIUM OXIDE
     Indication: Product used for unknown indication
     Dosage: 133 ML, PRN
     Route: 065
  506. MAGNESIUM OXIDE [Suspect]
     Active Substance: MAGNESIUM OXIDE
     Dosage: UNK
     Route: 065
  507. HEPARIN SODIUM [Suspect]
     Active Substance: HEPARIN SODIUM
     Indication: Anticoagulant therapy
     Dosage: 250 ML
     Route: 042
  508. HEPARIN SODIUM [Suspect]
     Active Substance: HEPARIN SODIUM
     Dosage: 50 ML, QD
     Route: 065
  509. HEPARIN SODIUM [Suspect]
     Active Substance: HEPARIN SODIUM
     Dosage: 50 ML, QD
     Route: 042
  510. HEPARIN SODIUM [Suspect]
     Active Substance: HEPARIN SODIUM
     Dosage: 50 ML
     Route: 042
  511. HEPARIN SODIUM [Suspect]
     Active Substance: HEPARIN SODIUM
     Dosage: 50 ML
     Route: 017
  512. HEPARIN SODIUM [Suspect]
     Active Substance: HEPARIN SODIUM
     Dosage: 250 ML
     Route: 042
  513. HEPARIN SODIUM [Suspect]
     Active Substance: HEPARIN SODIUM
     Dosage: 50 ML
     Route: 042
  514. HORSE CHESTNUT [Suspect]
     Active Substance: HORSE CHESTNUT
     Indication: Product used for unknown indication
     Dosage: UNK
     Route: 065
  515. VITAMIN B6 [Suspect]
     Active Substance: PYRIDOXINE HYDROCHLORIDE
     Indication: Vitamin supplementation
     Dosage: UNK
     Route: 048
  516. MAGNESIUM CARBONATE [Suspect]
     Active Substance: MAGNESIUM CARBONATE
     Indication: Constipation
     Dosage: 113 ML, PRN
     Route: 065
  517. UNSPECIFIED INGREDIENT [Suspect]
     Active Substance: UNSPECIFIED INGREDIENT
     Indication: Dyspnoea
     Dosage: 1 IU/KG
     Route: 048
  518. DARBEPOETIN ALFA [Suspect]
     Active Substance: DARBEPOETIN ALFA
     Indication: Anaemia
     Dosage: 0.71 UG, QOD
     Route: 065
  519. DARBEPOETIN ALFA [Suspect]
     Active Substance: DARBEPOETIN ALFA
     Dosage: 10 MG, QOD
     Route: 065
  520. VITAMIN E [Suspect]
     Active Substance: .ALPHA.-TOCOPHEROL
     Indication: Nutritional supplementation
     Dosage: 12.5 G
     Route: 042
  521. NOREPINEPHRINE BITARTRATE [Suspect]
     Active Substance: NOREPINEPHRINE BITARTRATE
     Indication: Stress
     Dosage: 1 DOSAGE FORM, QD
     Route: 048
  522. NOREPINEPHRINE BITARTRATE [Suspect]
     Active Substance: NOREPINEPHRINE BITARTRATE
     Dosage: UNK
     Route: 042
  523. NOREPINEPHRINE BITARTRATE [Suspect]
     Active Substance: NOREPINEPHRINE BITARTRATE
     Dosage: 3 MG, QD
     Route: 048
  524. DEXILANT [Suspect]
     Active Substance: DEXLANSOPRAZOLE
     Indication: Product used for unknown indication
     Dosage: 60 MG, QD (DELAYED RELEASE)
     Route: 048
  525. DISODIUM HYDROGEN CITRATE [Suspect]
     Active Substance: DISODIUM HYDROGEN CITRATE
     Indication: Thrombosis
     Dosage: 2.5 ML, PRN (4GM/100ML)
     Route: 065
  526. DISODIUM HYDROGEN CITRATE [Suspect]
     Active Substance: DISODIUM HYDROGEN CITRATE
     Dosage: UNK
     Route: 065
  527. DISODIUM HYDROGEN CITRATE [Suspect]
     Active Substance: DISODIUM HYDROGEN CITRATE
     Dosage: 2.5 ML
     Route: 048
  528. DISODIUM HYDROGEN CITRATE [Suspect]
     Active Substance: DISODIUM HYDROGEN CITRATE
     Dosage: 2.5 ML, QD
     Route: 048
  529. DISODIUM HYDROGEN CITRATE [Suspect]
     Active Substance: DISODIUM HYDROGEN CITRATE
     Dosage: 2.5 ML
     Route: 065
  530. DISODIUM HYDROGEN CITRATE [Suspect]
     Active Substance: DISODIUM HYDROGEN CITRATE
     Dosage: 2.5 ML, QD
     Route: 065
  531. DISODIUM HYDROGEN CITRATE [Suspect]
     Active Substance: DISODIUM HYDROGEN CITRATE
     Dosage: UNK
     Route: 065
  532. DISODIUM HYDROGEN CITRATE [Suspect]
     Active Substance: DISODIUM HYDROGEN CITRATE
     Dosage: 2.5 MG, QD
     Route: 065
  533. DISODIUM HYDROGEN CITRATE [Suspect]
     Active Substance: DISODIUM HYDROGEN CITRATE
     Dosage: 2.5 ML
     Route: 065
  534. DISODIUM HYDROGEN CITRATE [Suspect]
     Active Substance: DISODIUM HYDROGEN CITRATE
     Dosage: 25 ML
     Route: 065
  535. DISODIUM HYDROGEN CITRATE [Suspect]
     Active Substance: DISODIUM HYDROGEN CITRATE
     Dosage: 2 G
     Route: 065
  536. DISODIUM HYDROGEN CITRATE [Suspect]
     Active Substance: DISODIUM HYDROGEN CITRATE
     Dosage: 2.5 ML
     Route: 065
  537. SUCROSE [Suspect]
     Active Substance: SUCROSE
     Indication: Iron deficiency
     Dosage: 125 MG, QD (4.4643 MILLIGRAM DAILY)
     Route: 042
  538. SUCROSE [Suspect]
     Active Substance: SUCROSE
     Dosage: 12 MG
     Route: 042
  539. SUCROSE [Suspect]
     Active Substance: SUCROSE
     Dosage: 125 MG
     Route: 065
  540. LUTEIN [Suspect]
     Active Substance: LUTEIN
     Indication: Nutritional supplementation
     Dosage: 12.5 G, PRN
     Route: 042
  541. ALBUTEROL SULFATE [Suspect]
     Active Substance: ALBUTEROL SULFATE
     Indication: Chronic obstructive pulmonary disease
     Dosage: UNK, QD
  542. ALBUTEROL SULFATE [Suspect]
     Active Substance: ALBUTEROL SULFATE
     Dosage: 1 DOSAGE FORM, Q6H
  543. ALBUTEROL SULFATE [Suspect]
     Active Substance: ALBUTEROL SULFATE
     Dosage: 4 DOSAGE FORM, QID (Q6H)
  544. AMINOBENZOIC ACID [Suspect]
     Active Substance: AMINOBENZOIC ACID
     Indication: Product used for unknown indication
     Dosage: 12.5 MG
     Route: 065
  545. HOMEOPATHICS [Suspect]
     Active Substance: ARNICA MONTANA\CAUSTICUM\COMFREY ROOT\HOMEOPATHICS\LEDUM PALUSTRE TWIG\PSEUDOGNAPHALIUM OBTUSIFOLIUM
     Indication: Product used for unknown indication
     Dosage: 17 G, QD
     Route: 048
  546. BISMUTH SUBNITRATE [Suspect]
     Active Substance: BISMUTH SUBNITRATE
     Indication: Constipation
     Dosage: 133 ML, PRN
     Route: 065
  547. POLYETHYLENE GLYCOL 4000 [Suspect]
     Active Substance: POLYETHYLENE GLYCOL 4000
     Indication: Constipation
     Dosage: 17 MG, QD
     Route: 048
  548. POLYETHYLENE GLYCOL 4000 [Suspect]
     Active Substance: POLYETHYLENE GLYCOL 4000
     Dosage: 3 MG, QW
     Route: 048
  549. POLYETHYLENE GLYCOL 4000 [Suspect]
     Active Substance: POLYETHYLENE GLYCOL 4000
     Dosage: 17 G, QD
     Route: 048
  550. POLYETHYLENE GLYCOL 4000 [Suspect]
     Active Substance: POLYETHYLENE GLYCOL 4000
     Dosage: UNK, QD
     Route: 048
  551. POLYETHYLENE GLYCOL 4000 [Suspect]
     Active Substance: POLYETHYLENE GLYCOL 4000
     Dosage: 2.5 ML
     Route: 042
  552. XANTOFYL PALMITATE [Suspect]
     Active Substance: XANTOFYL PALMITATE
     Indication: Nutritional supplementation
     Dosage: 12.5 G, PRN
     Route: 065
  553. XANTOFYL PALMITATE [Suspect]
     Active Substance: XANTOFYL PALMITATE
     Dosage: 5 MG, QD
     Route: 042
  554. XANTOFYL PALMITATE [Suspect]
     Active Substance: XANTOFYL PALMITATE
     Dosage: 12.5 G
     Route: 042
  555. XANTOFYL PALMITATE [Suspect]
     Active Substance: XANTOFYL PALMITATE
     Dosage: UNK
     Route: 065
  556. FOSRENOL [Suspect]
     Active Substance: LANTHANUM CARBONATE
     Indication: Blood phosphorus increased
     Dosage: 500 MG (AS REQUIRED)
     Route: 048
  557. FOSRENOL [Suspect]
     Active Substance: LANTHANUM CARBONATE
     Indication: Hyperphosphataemia
     Dosage: 500 UG, QD
     Route: 048
  558. FOSRENOL [Suspect]
     Active Substance: LANTHANUM CARBONATE
     Dosage: 500 MG
     Route: 048
  559. BIOTIN [Suspect]
     Active Substance: BIOTIN
     Indication: Product used for unknown indication
     Route: 065
  560. ALUMINUM HYDROXIDE [Suspect]
     Active Substance: ALUMINUM HYDROXIDE
     Indication: Product used for unknown indication
     Dosage: UNK
     Route: 065
  561. BISACODYL [Suspect]
     Active Substance: BISACODYL
     Indication: Ventricular fibrillation
     Dosage: 10 MG (INTRAVENOUS (NOT OTHERWISE SPECIFIED))
     Route: 042
  562. BISACODYL [Suspect]
     Active Substance: BISACODYL
     Indication: Constipation
     Dosage: 10 MG
     Route: 065
  563. BISACODYL [Suspect]
     Active Substance: BISACODYL
     Indication: Drug therapy
     Dosage: 10 MG (INTRAVENOUS (NOT OTHERWISE SPECIFIED))
     Route: 042
  564. BISACODYL [Suspect]
     Active Substance: BISACODYL
     Dosage: UNK
     Route: 065
  565. BISACODYL [Suspect]
     Active Substance: BISACODYL
     Dosage: 10 MG
     Route: 065
  566. BISACODYL [Suspect]
     Active Substance: BISACODYL
     Dosage: 10 MG, QD
     Route: 054
  567. BISACODYL [Suspect]
     Active Substance: BISACODYL
     Dosage: 10 MG
     Route: 054
  568. NYSTATIN [Suspect]
     Active Substance: NYSTATIN
     Indication: Bacterial infection
     Dosage: 500 MG
     Route: 065
  569. NYSTATIN [Suspect]
     Active Substance: NYSTATIN
     Dosage: 1500 MG
     Route: 065
  570. FENOTEROL [Suspect]
     Active Substance: FENOTEROL
     Indication: Dyspnoea
     Dosage: UNK
     Route: 065
  571. FENOTEROL [Suspect]
     Active Substance: FENOTEROL
     Dosage: UNK, QD (4 IU)
     Route: 065
  572. FENOTEROL [Suspect]
     Active Substance: FENOTEROL
     Dosage: UNK, QD
     Route: 065
  573. FENOTEROL [Suspect]
     Active Substance: FENOTEROL
     Dosage: UNK, QD
     Route: 065
  574. FENOTEROL [Suspect]
     Active Substance: FENOTEROL
     Dosage: 1 DOSAGE FORM, QD
     Route: 050
  575. FENOTEROL [Suspect]
     Active Substance: FENOTEROL
     Dosage: 1 DOSAGE FORM, QD
     Route: 065
  576. FENOTEROL [Suspect]
     Active Substance: FENOTEROL
     Dosage: 1 DOSAGE FORM, TID
     Route: 050
  577. FLUTICASONE PROPIONATE [Suspect]
     Active Substance: FLUTICASONE PROPIONATE
     Indication: Nutritional supplementation
     Dosage: UNK
     Route: 065
  578. GABAPENTIN ENACARBIL [Suspect]
     Active Substance: GABAPENTIN ENACARBIL
     Indication: Neuralgia
     Dosage: 100 MG, QD
     Route: 048
  579. DEXTROSE [Suspect]
     Active Substance: DEXTROSE\DEXTROSE MONOHYDRATE
     Indication: Nutritional supplementation
     Dosage: 12.5 G
     Route: 042
  580. DEXTROSE [Suspect]
     Active Substance: DEXTROSE\DEXTROSE MONOHYDRATE
     Indication: Anticoagulant therapy
     Dosage: 12.5 G, QD
     Route: 042
  581. DEXTROSE [Suspect]
     Active Substance: DEXTROSE\DEXTROSE MONOHYDRATE
     Dosage: 12.5 G
     Route: 065
  582. DEXTROSE [Suspect]
     Active Substance: DEXTROSE\DEXTROSE MONOHYDRATE
     Dosage: 12.5 G, QD
     Route: 065
  583. DEXTROSE [Suspect]
     Active Substance: DEXTROSE\DEXTROSE MONOHYDRATE
     Dosage: 12 G, QD
     Route: 042
  584. DEXTROSE [Suspect]
     Active Substance: DEXTROSE\DEXTROSE MONOHYDRATE
     Dosage: 12.5 G
     Route: 065
  585. DEXTROSE [Suspect]
     Active Substance: DEXTROSE\DEXTROSE MONOHYDRATE
     Dosage: 12.5 G, QD
     Route: 042
  586. DEXTROSE [Suspect]
     Active Substance: DEXTROSE\DEXTROSE MONOHYDRATE
     Dosage: 12.5 G
     Route: 042
  587. DEXTROSE [Suspect]
     Active Substance: DEXTROSE\DEXTROSE MONOHYDRATE
     Dosage: 12.5 G
     Route: 042
  588. DEXTROSE [Suspect]
     Active Substance: DEXTROSE\DEXTROSE MONOHYDRATE
     Dosage: UNK
     Route: 065
  589. DEXTROSE [Suspect]
     Active Substance: DEXTROSE\DEXTROSE MONOHYDRATE
     Dosage: 250 ML
     Route: 042
  590. DEXTROSE [Suspect]
     Active Substance: DEXTROSE\DEXTROSE MONOHYDRATE
     Dosage: 50 ML, QD
     Route: 065
  591. DEXTROSE [Suspect]
     Active Substance: DEXTROSE\DEXTROSE MONOHYDRATE
     Dosage: 250 ML, QD
     Route: 042
  592. DEXTROSE [Suspect]
     Active Substance: DEXTROSE\DEXTROSE MONOHYDRATE
     Dosage: 250 ML
     Route: 017
  593. DEXTROSE [Suspect]
     Active Substance: DEXTROSE\DEXTROSE MONOHYDRATE
     Dosage: 50 ML, QD
     Route: 042
  594. DEXTROSE [Suspect]
     Active Substance: DEXTROSE\DEXTROSE MONOHYDRATE
     Dosage: 250 ML
     Route: 042
  595. DEXTROSE [Suspect]
     Active Substance: DEXTROSE\DEXTROSE MONOHYDRATE
     Dosage: UNK
     Route: 065
  596. DEXTROSE [Suspect]
     Active Substance: DEXTROSE\DEXTROSE MONOHYDRATE
     Dosage: 50 ML
     Route: 042
  597. DEXTROSE [Suspect]
     Active Substance: DEXTROSE\DEXTROSE MONOHYDRATE
     Dosage: 50 ML
     Route: 017
  598. DEXTROSE [Suspect]
     Active Substance: DEXTROSE\DEXTROSE MONOHYDRATE
     Dosage: 12.5 MG
     Route: 042
  599. DEXTROSE [Suspect]
     Active Substance: DEXTROSE\DEXTROSE MONOHYDRATE
     Dosage: 12.5 MG, QD
     Route: 042
  600. DEXTROSE [Suspect]
     Active Substance: DEXTROSE\DEXTROSE MONOHYDRATE
     Dosage: 12.5 MG, QD
     Route: 042
  601. DEXTROSE [Suspect]
     Active Substance: DEXTROSE\DEXTROSE MONOHYDRATE
     Dosage: 12.5 G
     Route: 042
  602. SODIUM CHLORIDE [Suspect]
     Active Substance: SODIUM CHLORIDE
     Indication: Anticoagulant therapy
     Dosage: 250 ML
     Route: 042
  603. SODIUM CHLORIDE [Suspect]
     Active Substance: SODIUM CHLORIDE
     Indication: Constipation
     Dosage: 50 ML
     Route: 042
  604. SODIUM CHLORIDE [Suspect]
     Active Substance: SODIUM CHLORIDE
     Dosage: 17 G, QD
     Route: 048
  605. SODIUM CHLORIDE [Suspect]
     Active Substance: SODIUM CHLORIDE
     Dosage: 17 G, QD
     Route: 065
  606. ALBUTEROL SULFATE\IPRATROPIUM BROMIDE [Suspect]
     Active Substance: ALBUTEROL SULFATE\IPRATROPIUM BROMIDE
     Indication: Dyspnoea
     Dosage: 1 DOSAGE FORM
  607. XYLOMETAZOLINE HYDROCHLORIDE [Suspect]
     Active Substance: XYLOMETAZOLINE HYDROCHLORIDE
     Indication: Dyspnoea
     Dosage: UNK
  608. POLYETHYLENE GLYCOL 400 [Suspect]
     Active Substance: POLYETHYLENE GLYCOL 400
     Indication: Constipation
     Dosage: 3 G
     Route: 065
  609. POLYETHYLENE GLYCOL 400 [Suspect]
     Active Substance: POLYETHYLENE GLYCOL 400
     Dosage: UNK
     Route: 065
  610. POLYETHYLENE GLYCOL 400 [Suspect]
     Active Substance: POLYETHYLENE GLYCOL 400
     Dosage: 17 MG, QD
     Route: 048
  611. POLYETHYLENE GLYCOL 400 [Suspect]
     Active Substance: POLYETHYLENE GLYCOL 400
     Dosage: 3 MG
     Route: 048
  612. POLYETHYLENE GLYCOL 400 [Suspect]
     Active Substance: POLYETHYLENE GLYCOL 400
     Dosage: 17 G, QD
     Route: 048
  613. POLYETHYLENE GLYCOL 400 [Suspect]
     Active Substance: POLYETHYLENE GLYCOL 400
     Dosage: 2.5 ML
     Route: 065
  614. ANHYDROUS CITRIC ACID\MAGNESIUM OXIDE\SODIUM PICOSULFATE [Suspect]
     Active Substance: ANHYDROUS CITRIC ACID\MAGNESIUM OXIDE\SODIUM PICOSULFATE
     Indication: Constipation
     Dosage: 10 MG
     Route: 054
  615. RIBOFLAVIN [Suspect]
     Active Substance: RIBOFLAVIN
     Indication: Product used for unknown indication
     Dosage: 17 G, QD
     Route: 065
  616. RIBOFLAVIN [Suspect]
     Active Substance: RIBOFLAVIN
     Dosage: UNK
     Route: 048
  617. SALMETEROL XINAFOATE [Suspect]
     Active Substance: SALMETEROL XINAFOATE
     Indication: Product used for unknown indication
     Dosage: UNK
     Route: 065
  618. VITAMIN C [Suspect]
     Active Substance: ASCORBIC ACID
     Indication: Constipation
     Dosage: 17 G, QD
     Route: 065
  619. ANORO ELLIPTA [Suspect]
     Active Substance: UMECLIDINIUM BROMIDE\VILANTEROL TRIFENATATE
     Indication: Dyspnoea
     Dosage: 1 IU (POWDER FOR ORAL INHALATION)
     Route: 065
  620. DIPYRONE [Suspect]
     Active Substance: DIPYRONE
     Indication: Vitamin supplementation
     Route: 030
  621. ISOFLAVONES SOY [Suspect]
     Active Substance: ISOFLAVONES SOY
     Indication: Constipation
     Dosage: UNK
     Route: 065
  622. BREO ELLIPTA [Suspect]
     Active Substance: FLUTICASONE FUROATE\VILANTEROL TRIFENATATE
     Indication: Nutritional supplementation
     Dosage: UNK
     Route: 048
  623. BREO ELLIPTA [Suspect]
     Active Substance: FLUTICASONE FUROATE\VILANTEROL TRIFENATATE
     Indication: Dyspnoea
     Dosage: 1 IU, QD
  624. BREO ELLIPTA [Suspect]
     Active Substance: FLUTICASONE FUROATE\VILANTEROL TRIFENATATE
     Dosage: UNK
  625. METAMIZOLE SODIUM [Suspect]
     Active Substance: METAMIZOLE SODIUM
     Indication: Vitamin supplementation
     Dosage: 5 MG, QD
     Route: 042
  626. SODIUM PHOSPHATE, MONOBASIC [Suspect]
     Active Substance: SODIUM PHOSPHATE, MONOBASIC
     Indication: Constipation
     Dosage: 133 ML
     Route: 054
  627. LYPRESSIN [Suspect]
     Active Substance: LYPRESSIN
     Indication: Product used for unknown indication
     Dosage: UNK
     Route: 065
  628. POTASSIUM PERCHLORATE [Suspect]
     Active Substance: POTASSIUM PERCHLORATE
     Indication: Product used for unknown indication
     Dosage: UNK
     Route: 065
  629. FISH OIL [Suspect]
     Active Substance: FISH OIL
     Indication: Nutritional supplementation
     Dosage: 12.5 G
     Route: 065
  630. FERROUS SUCCINATE [Suspect]
     Active Substance: FERROUS SUCCINATE
     Indication: Iron deficiency
     Dosage: UNK
     Route: 042
  631. WARFARIN SODIUM [Suspect]
     Active Substance: WARFARIN SODIUM
     Indication: Thrombosis
     Dosage: 2. MG, QD
     Route: 048
  632. WARFARIN SODIUM [Suspect]
     Active Substance: WARFARIN SODIUM
     Dosage: 2 G, QD
     Route: 048
  633. WARFARIN SODIUM [Suspect]
     Active Substance: WARFARIN SODIUM
     Dosage: 2 ML, QD
     Route: 048
  634. NPH INSULIN [Suspect]
     Active Substance: INSULIN BEEF
     Indication: Diabetes mellitus
     Dosage: UNK
     Route: 065
  635. WARFARIN [Suspect]
     Active Substance: WARFARIN
     Indication: Thrombosis
     Dosage: UNK
     Route: 048
  636. WARFARIN [Suspect]
     Active Substance: WARFARIN
     Dosage: 2 G, QD
     Route: 048
  637. WARFARIN [Suspect]
     Active Substance: WARFARIN
     Dosage: 2 ML, QD
     Route: 065
  638. WARFARIN [Suspect]
     Active Substance: WARFARIN
     Dosage: 2 MG, QD
     Route: 048
  639. WARFARIN [Suspect]
     Active Substance: WARFARIN
     Dosage: 2 ML
     Route: 048
  640. WARFARIN [Suspect]
     Active Substance: WARFARIN
     Dosage: UNK, QD
     Route: 048
  641. RAMIPRIL [Suspect]
     Active Substance: RAMIPRIL
     Indication: Product used for unknown indication
     Dosage: UNK
     Route: 065
  642. POLYETHYLENE GLYCOL 4000 [Suspect]
     Active Substance: POLYETHYLENE GLYCOL 4000
     Indication: Constipation
     Dosage: 2.5 ML
     Route: 065
  643. POLYETHYLENE GLYCOL 4000 [Suspect]
     Active Substance: POLYETHYLENE GLYCOL 4000
     Dosage: UNK
     Route: 065
  644. POLYETHYLENE GLYCOL 4000 [Suspect]
     Active Substance: POLYETHYLENE GLYCOL 4000
     Dosage: 17 G, QD
     Route: 048
  645. POLYETHYLENE GLYCOL 4000 [Suspect]
     Active Substance: POLYETHYLENE GLYCOL 4000
     Dosage: 17 MG, QD
     Route: 048
  646. POLYETHYLENE GLYCOL 4000 [Suspect]
     Active Substance: POLYETHYLENE GLYCOL 4000
     Dosage: 3 G
     Route: 048
  647. NICOTINAMIDE [Suspect]
     Active Substance: NIACINAMIDE
     Indication: Product used for unknown indication
     Dosage: UNK
     Route: 065
  648. HEPARIN CALCIUM [Suspect]
     Active Substance: HEPARIN CALCIUM
     Indication: Intentional product misuse
     Dosage: UNK
     Route: 065
  649. HEPARIN CALCIUM [Suspect]
     Active Substance: HEPARIN CALCIUM
     Indication: Anticoagulant therapy
  650. BETAMETHASONE DIPROPIONATE [Suspect]
     Active Substance: BETAMETHASONE DIPROPIONATE
     Indication: Swelling
     Dosage: UNK
     Route: 065
  651. VITAMIN D [Concomitant]
     Active Substance: VITAMIN D NOS
     Indication: Product used for unknown indication
     Dosage: UNK
     Route: 065
  652. VITAMIN C [Concomitant]
     Active Substance: ASCORBIC ACID
     Indication: Product used for unknown indication
     Dosage: UNK
     Route: 065
  653. BETA CAROTENE [Concomitant]
     Active Substance: BETA CAROTENE
     Indication: Nutritional supplementation
     Dosage: 12.5 G, PRN (SOLUTION FOR INJECTION)
     Route: 042
  654. COLCHICINE [Concomitant]
     Active Substance: COLCHICINE
     Indication: Product used for unknown indication
     Dosage: UNK
     Route: 065
  655. DISODIUM HYDROGEN CITRATE [Concomitant]
     Active Substance: DISODIUM HYDROGEN CITRATE
     Indication: Product used for unknown indication
     Dosage: 2.5 ML
     Route: 065
  656. CHOLECALCIFEROL [Concomitant]
     Active Substance: CHOLECALCIFEROL
     Indication: Product used for unknown indication
     Dosage: UNK
     Route: 065
  657. AMLODIPINE [Concomitant]
     Active Substance: AMLODIPINE BESYLATE
     Indication: Analgesic therapy
     Dosage: UNK
     Route: 065

REACTIONS (11)
  - Ascites [Fatal]
  - Constipation [Fatal]
  - Nausea [Fatal]
  - Vomiting [Fatal]
  - Appendicolith [Fatal]
  - Abdominal distension [Fatal]
  - Abdominal pain [Fatal]
  - Appendicitis [Fatal]
  - Ulcer [Fatal]
  - Bacteroides infection [Fatal]
  - Troponin increased [Fatal]

NARRATIVE: CASE EVENT DATE: 20200601
